FAERS Safety Report 14638057 (Version 34)
Quarter: 2025Q4

REPORT INFORMATION
  Report Type: Spontaneous
  Country: CA (occurrence: CA)
  Receive Date: 20180314
  Receipt Date: 20251223
  Transmission Date: 20260117
  Serious: Yes (Life-Threatening, Hospitalization, Disabling, Other)
  Sender: BRISTOL-MYERS SQUIBB COMPANY
  Company Number: CA-BRISTOL-MYERS SQUIBB COMPANY-BMS-2015-058741

PATIENT
  Age: 40 Year
  Sex: Female
  Weight: 96 kg

DRUGS (1303)
  1. ORENCIA [Suspect]
     Active Substance: ABATACEPT
     Indication: Rheumatoid arthritis
     Route: 040
     Dates: start: 200701, end: 201304
  2. ORENCIA [Suspect]
     Active Substance: ABATACEPT
     Indication: Psoriatic arthropathy
     Dosage: 750 MILLIGRAM?THERAPY DURATION WAS 7 YEARS
     Route: 042
     Dates: start: 200701, end: 201304
  3. ORENCIA [Suspect]
     Active Substance: ABATACEPT
     Dosage: 750 MILLIGRAM?THERAPY DURATION WAS 7 YEARS
     Route: 042
     Dates: start: 200701, end: 201304
  4. ORENCIA [Suspect]
     Active Substance: ABATACEPT
     Dosage: 750 MILLIGRAM?THERAPY DURATION WAS 7 YEARS
     Route: 041
     Dates: start: 200701, end: 201304
  5. ORENCIA [Suspect]
     Active Substance: ABATACEPT
     Dosage: DOSAGE FORM
     Route: 040
  6. ORENCIA [Suspect]
     Active Substance: ABATACEPT
     Route: 042
  7. ORENCIA [Suspect]
     Active Substance: ABATACEPT
     Route: 042
  8. ORENCIA [Suspect]
     Active Substance: ABATACEPT
     Route: 042
  9. ORENCIA [Suspect]
     Active Substance: ABATACEPT
     Route: 042
  10. ORENCIA [Suspect]
     Active Substance: ABATACEPT
     Route: 042
  11. ORENCIA [Suspect]
     Active Substance: ABATACEPT
     Route: 040
  12. ORENCIA [Suspect]
     Active Substance: ABATACEPT
     Route: 042
  13. ORENCIA [Suspect]
     Active Substance: ABATACEPT
     Route: 041
  14. ORENCIA [Suspect]
     Active Substance: ABATACEPT
     Route: 042
  15. ORENCIA [Suspect]
     Active Substance: ABATACEPT
  16. ORENCIA [Suspect]
     Active Substance: ABATACEPT
  17. ORENCIA [Suspect]
     Active Substance: ABATACEPT
  18. ORENCIA [Suspect]
     Active Substance: ABATACEPT
     Route: 067
  19. ORENCIA [Suspect]
     Active Substance: ABATACEPT
  20. ORENCIA [Suspect]
     Active Substance: ABATACEPT
  21. ORENCIA [Suspect]
     Active Substance: ABATACEPT
     Dosage: 750 MILLIGRAM?THERAPY DURATION WAS 7 YEARS
     Route: 042
     Dates: start: 200701, end: 201304
  22. ORENCIA [Suspect]
     Active Substance: ABATACEPT
     Indication: Rheumatoid arthritis
     Route: 058
  23. ORENCIA [Suspect]
     Active Substance: ABATACEPT
     Indication: Psoriatic arthropathy
     Route: 058
  24. ORENCIA [Suspect]
     Active Substance: ABATACEPT
     Dosage: 1 EVERY 24 HOURS
     Route: 058
  25. ORENCIA [Suspect]
     Active Substance: ABATACEPT
     Route: 058
  26. ORENCIA [Suspect]
     Active Substance: ABATACEPT
     Route: 058
  27. ORENCIA [Suspect]
     Active Substance: ABATACEPT
     Route: 058
  28. ORENCIA [Suspect]
     Active Substance: ABATACEPT
     Route: 058
  29. ORENCIA [Suspect]
     Active Substance: ABATACEPT
     Route: 058
  30. ORENCIA [Suspect]
     Active Substance: ABATACEPT
     Route: 058
  31. ORENCIA [Suspect]
     Active Substance: ABATACEPT
  32. ORENCIA [Suspect]
     Active Substance: ABATACEPT
  33. ORENCIA [Suspect]
     Active Substance: ABATACEPT
     Route: 058
  34. ORENCIA [Suspect]
     Active Substance: ABATACEPT
     Route: 058
  35. ORENCIA [Suspect]
     Active Substance: ABATACEPT
     Route: 058
  36. ORENCIA [Suspect]
     Active Substance: ABATACEPT
     Route: 040
  37. ORENCIA [Suspect]
     Active Substance: ABATACEPT
     Route: 040
  38. ORENCIA [Suspect]
     Active Substance: ABATACEPT
     Route: 040
  39. ORENCIA [Suspect]
     Active Substance: ABATACEPT
     Route: 040
  40. ORENCIA [Suspect]
     Active Substance: ABATACEPT
     Route: 040
  41. ORENCIA [Suspect]
     Active Substance: ABATACEPT
     Route: 042
  42. ORENCIA [Suspect]
     Active Substance: ABATACEPT
  43. ORENCIA [Suspect]
     Active Substance: ABATACEPT
  44. ORENCIA [Suspect]
     Active Substance: ABATACEPT
     Route: 067
  45. ORENCIA [Suspect]
     Active Substance: ABATACEPT
  46. ORENCIA [Suspect]
     Active Substance: ABATACEPT
  47. ORENCIA [Suspect]
     Active Substance: ABATACEPT
  48. ORENCIA [Suspect]
     Active Substance: ABATACEPT
  49. ORENCIA [Suspect]
     Active Substance: ABATACEPT
  50. ORENCIA [Suspect]
     Active Substance: ABATACEPT
  51. ORENCIA [Suspect]
     Active Substance: ABATACEPT
     Indication: Psoriatic arthropathy
  52. ORENCIA [Suspect]
     Active Substance: ABATACEPT
     Indication: Rheumatoid arthritis
  53. ORENCIA [Suspect]
     Active Substance: ABATACEPT
  54. ORENCIA [Suspect]
     Active Substance: ABATACEPT
  55. ORENCIA [Suspect]
     Active Substance: ABATACEPT
  56. ORENCIA [Suspect]
     Active Substance: ABATACEPT
  57. ORENCIA [Suspect]
     Active Substance: ABATACEPT
     Route: 017
  58. ORENCIA [Suspect]
     Active Substance: ABATACEPT
     Route: 017
  59. ORENCIA [Suspect]
     Active Substance: ABATACEPT
     Route: 017
  60. ORENCIA [Suspect]
     Active Substance: ABATACEPT
     Route: 067
  61. ORENCIA [Suspect]
     Active Substance: ABATACEPT
     Route: 048
  62. ORENCIA [Suspect]
     Active Substance: ABATACEPT
     Route: 015
  63. ORENCIA [Suspect]
     Active Substance: ABATACEPT
     Route: 058
  64. ORENCIA [Suspect]
     Active Substance: ABATACEPT
     Route: 053
  65. ORENCIA [Suspect]
     Active Substance: ABATACEPT
  66. ORENCIA [Suspect]
     Active Substance: ABATACEPT
     Route: 042
  67. ORENCIA [Suspect]
     Active Substance: ABATACEPT
  68. ORENCIA [Suspect]
     Active Substance: ABATACEPT
     Route: 042
  69. ORENCIA [Suspect]
     Active Substance: ABATACEPT
  70. ORENCIA [Suspect]
     Active Substance: ABATACEPT
     Route: 058
  71. ORENCIA [Suspect]
     Active Substance: ABATACEPT
  72. ORENCIA [Suspect]
     Active Substance: ABATACEPT
     Route: 017
  73. ORENCIA [Suspect]
     Active Substance: ABATACEPT
  74. ORENCIA [Suspect]
     Active Substance: ABATACEPT
  75. ORENCIA [Suspect]
     Active Substance: ABATACEPT
  76. ORENCIA [Suspect]
     Active Substance: ABATACEPT
     Route: 058
  77. ORENCIA [Suspect]
     Active Substance: ABATACEPT
     Route: 040
  78. ORENCIA [Suspect]
     Active Substance: ABATACEPT
     Route: 058
  79. ORENCIA [Suspect]
     Active Substance: ABATACEPT
  80. ORENCIA [Suspect]
     Active Substance: ABATACEPT
     Route: 042
  81. ORENCIA [Suspect]
     Active Substance: ABATACEPT
     Route: 040
  82. ORENCIA [Suspect]
     Active Substance: ABATACEPT
     Route: 040
  83. TRIAMCINOLONE ACETONIDE [Suspect]
     Active Substance: TRIAMCINOLONE ACETONIDE
     Indication: Rheumatoid arthritis
     Dosage: SUSPENSION INTRA-ARTICULAR
     Route: 014
  84. TRIAMCINOLONE ACETONIDE [Suspect]
     Active Substance: TRIAMCINOLONE ACETONIDE
     Dosage: SUSPENSION INTRAARTICULAR
  85. TRIAMCINOLONE ACETONIDE [Suspect]
     Active Substance: TRIAMCINOLONE ACETONIDE
  86. TRIAMCINOLONE ACETONIDE [Suspect]
     Active Substance: TRIAMCINOLONE ACETONIDE
  87. AZULFIDINE [Concomitant]
     Active Substance: SULFASALAZINE
     Indication: Product used for unknown indication
  88. LEFLUNOMIDE [Concomitant]
     Active Substance: LEFLUNOMIDE
     Indication: Rheumatoid arthritis
     Route: 048
  89. LEFLUNOMIDE [Concomitant]
     Active Substance: LEFLUNOMIDE
  90. LEFLUNOMIDE [Concomitant]
     Active Substance: LEFLUNOMIDE
  91. LEFLUNOMIDE [Concomitant]
     Active Substance: LEFLUNOMIDE
  92. LEFLUNOMIDE [Concomitant]
     Active Substance: LEFLUNOMIDE
  93. LEFLUNOMIDE [Concomitant]
     Active Substance: LEFLUNOMIDE
  94. PREDNISONE [Concomitant]
     Active Substance: PREDNISONE
     Indication: Rheumatoid arthritis
     Route: 048
  95. PREDNISONE [Concomitant]
     Active Substance: PREDNISONE
     Indication: Systemic lupus erythematosus
     Dosage: UNK, QD?10.0 FEMTOGRAM
     Route: 048
  96. PREDNISONE [Concomitant]
     Active Substance: PREDNISONE
     Indication: Synovitis
  97. PREDNISONE [Concomitant]
     Active Substance: PREDNISONE
     Indication: Psoriatic arthropathy
  98. PREDNISONE [Concomitant]
     Active Substance: PREDNISONE
     Indication: Pemphigus
     Route: 048
  99. PREDNISONE [Concomitant]
     Active Substance: PREDNISONE
     Indication: Inflammation
  100. PREDNISONE [Concomitant]
     Active Substance: PREDNISONE
     Indication: Bursitis
     Route: 048
  101. PREDNISONE [Concomitant]
     Active Substance: PREDNISONE
     Route: 048
  102. PREDNISONE [Concomitant]
     Active Substance: PREDNISONE
     Route: 048
  103. PREDNISONE [Concomitant]
     Active Substance: PREDNISONE
  104. PREDNISONE [Concomitant]
     Active Substance: PREDNISONE
  105. FOLIC ACID [Concomitant]
     Active Substance: FOLIC ACID
     Indication: Rheumatoid arthritis
     Dosage: QWK
  106. FOLIC ACID [Concomitant]
     Active Substance: FOLIC ACID
     Dosage: QWK
  107. FOLIC ACID [Concomitant]
     Active Substance: FOLIC ACID
     Route: 048
  108. FOLIC ACID [Concomitant]
     Active Substance: FOLIC ACID
     Route: 058
  109. FOLIC ACID [Concomitant]
     Active Substance: FOLIC ACID
     Route: 048
  110. FOLIC ACID [Concomitant]
     Active Substance: FOLIC ACID
     Route: 048
  111. FOLIC ACID [Concomitant]
     Active Substance: FOLIC ACID
     Route: 048
  112. FOLIC ACID [Concomitant]
     Active Substance: FOLIC ACID
     Route: 048
  113. FOLIC ACID [Concomitant]
     Active Substance: FOLIC ACID
  114. FOLIC ACID [Concomitant]
     Active Substance: FOLIC ACID
  115. FOLIC ACID [Concomitant]
     Active Substance: FOLIC ACID
     Route: 048
  116. FOLIC ACID [Concomitant]
     Active Substance: FOLIC ACID
  117. FOLIC ACID [Concomitant]
     Active Substance: FOLIC ACID
     Route: 048
  118. FOLIC ACID [Concomitant]
     Active Substance: FOLIC ACID
  119. FOLIC ACID [Concomitant]
     Active Substance: FOLIC ACID
  120. FOLIC ACID [Concomitant]
     Active Substance: FOLIC ACID
  121. FOLIC ACID [Concomitant]
     Active Substance: FOLIC ACID
  122. FOLIC ACID [Concomitant]
     Active Substance: FOLIC ACID
  123. FOLIC ACID [Concomitant]
     Active Substance: FOLIC ACID
     Route: 048
  124. FOLIC ACID [Concomitant]
     Active Substance: FOLIC ACID
  125. FOLIC ACID [Concomitant]
     Active Substance: FOLIC ACID
  126. FOLIC ACID [Concomitant]
     Active Substance: FOLIC ACID
  127. FOLIC ACID [Concomitant]
     Active Substance: FOLIC ACID
  128. FOLIC ACID [Concomitant]
     Active Substance: FOLIC ACID
  129. FOLIC ACID [Concomitant]
     Active Substance: FOLIC ACID
  130. FOLIC ACID [Concomitant]
     Active Substance: FOLIC ACID
  131. FOLIC ACID [Concomitant]
     Active Substance: FOLIC ACID
  132. FOLIC ACID [Concomitant]
     Active Substance: FOLIC ACID
  133. FOLIC ACID [Concomitant]
     Active Substance: FOLIC ACID
  134. FOLIC ACID [Concomitant]
     Active Substance: FOLIC ACID
  135. HUMIRA [Concomitant]
     Active Substance: ADALIMUMAB
     Indication: Rheumatoid arthritis
     Dosage: 50 MILLIGRAM
     Route: 058
  136. HUMIRA [Concomitant]
     Active Substance: ADALIMUMAB
     Dosage: 40 MILLIGRAM?THERAPY DURATION- 4 MONTHS
     Route: 058
  137. HUMIRA [Concomitant]
     Active Substance: ADALIMUMAB
     Dosage: 40 MILLIGRAM?THERAPY DURATION- 4 MONTHS
     Route: 058
  138. HUMIRA [Concomitant]
     Active Substance: ADALIMUMAB
     Dosage: 40 MILLIGRAM?THERAPY DURATION- 4 MONTHS
     Route: 058
  139. HUMIRA [Concomitant]
     Active Substance: ADALIMUMAB
     Dosage: 40 MILLIGRAM?THERAPY DURATION- 4 MONTHS
     Route: 058
  140. HUMIRA [Concomitant]
     Active Substance: ADALIMUMAB
     Dosage: 40 MILLIGRAM?THERAPY DURATION- 4 MONTHS
     Route: 058
  141. HUMIRA [Concomitant]
     Active Substance: ADALIMUMAB
     Dosage: 40 MILLIGRAM?THERAPY DURATION- 4 MONTHS
     Route: 058
  142. HUMIRA [Concomitant]
     Active Substance: ADALIMUMAB
  143. HUMIRA [Concomitant]
     Active Substance: ADALIMUMAB
  144. HUMIRA [Concomitant]
     Active Substance: ADALIMUMAB
     Dosage: SOLUTION?SUBCUTANEOUS
     Route: 058
  145. HUMIRA [Concomitant]
     Active Substance: ADALIMUMAB
     Route: 058
  146. HUMIRA [Concomitant]
     Active Substance: ADALIMUMAB
     Dosage: 50 MILLIGRAM
     Route: 058
  147. HUMIRA [Concomitant]
     Active Substance: ADALIMUMAB
     Dosage: 50 MILLIGRAM
     Route: 058
  148. HUMIRA [Concomitant]
     Active Substance: ADALIMUMAB
     Dosage: 50 MILLIGRAM
     Route: 058
  149. HUMIRA [Concomitant]
     Active Substance: ADALIMUMAB
     Dosage: 50 MILLIGRAM
     Route: 058
  150. HUMIRA [Concomitant]
     Active Substance: ADALIMUMAB
     Dosage: 50 MILLIGRAM
     Route: 058
  151. HYDROXYCHLOROQUINE SULFATE [Concomitant]
     Active Substance: HYDROXYCHLOROQUINE SULFATE
     Indication: Rheumatoid arthritis
     Dosage: 20 MILLIGRAM, QD
     Route: 048
  152. HYDROXYCHLOROQUINE SULFATE [Concomitant]
     Active Substance: HYDROXYCHLOROQUINE SULFATE
     Indication: Systemic lupus erythematosus
     Dosage: UNK
  153. HYDROXYCHLOROQUINE SULFATE [Concomitant]
     Active Substance: HYDROXYCHLOROQUINE SULFATE
     Dosage: 600 MILLIGRAM, QD
     Route: 048
  154. HYDROXYCHLOROQUINE SULFATE [Concomitant]
     Active Substance: HYDROXYCHLOROQUINE SULFATE
  155. HYDROXYCHLOROQUINE SULFATE [Concomitant]
     Active Substance: HYDROXYCHLOROQUINE SULFATE
     Route: 048
  156. HYDROXYCHLOROQUINE SULFATE [Concomitant]
     Active Substance: HYDROXYCHLOROQUINE SULFATE
     Route: 048
  157. HYDROXYCHLOROQUINE SULFATE [Concomitant]
     Active Substance: HYDROXYCHLOROQUINE SULFATE
     Route: 005
  158. HYDROXYCHLOROQUINE SULFATE [Concomitant]
     Active Substance: HYDROXYCHLOROQUINE SULFATE
     Route: 058
  159. HYDROXYCHLOROQUINE SULFATE [Concomitant]
     Active Substance: HYDROXYCHLOROQUINE SULFATE
     Dosage: 20 MILLIGRAM, QD
     Route: 048
  160. HYDROXYCHLOROQUINE SULFATE [Concomitant]
     Active Substance: HYDROXYCHLOROQUINE SULFATE
     Route: 048
  161. HYDROXYCHLOROQUINE SULFATE [Concomitant]
     Active Substance: HYDROXYCHLOROQUINE SULFATE
     Route: 058
  162. METHOTREXATE SODIUM [Concomitant]
     Active Substance: METHOTREXATE SODIUM
     Indication: Rheumatoid arthritis
     Route: 048
  163. METHOTREXATE SODIUM [Concomitant]
     Active Substance: METHOTREXATE SODIUM
     Route: 048
  164. METHOTREXATE SODIUM [Concomitant]
     Active Substance: METHOTREXATE SODIUM
     Route: 048
  165. METHOTREXATE SODIUM [Concomitant]
     Active Substance: METHOTREXATE SODIUM
  166. METHOTREXATE SODIUM [Concomitant]
     Active Substance: METHOTREXATE SODIUM
     Route: 048
  167. METHOTREXATE SODIUM [Concomitant]
     Active Substance: METHOTREXATE SODIUM
  168. METHOTREXATE SODIUM [Concomitant]
     Active Substance: METHOTREXATE SODIUM
     Route: 040
  169. METHOTREXATE SODIUM [Concomitant]
     Active Substance: METHOTREXATE SODIUM
  170. METHOTREXATE SODIUM [Concomitant]
     Active Substance: METHOTREXATE SODIUM
  171. METHOTREXATE SODIUM [Concomitant]
     Active Substance: METHOTREXATE SODIUM
  172. METHOTREXATE SODIUM [Concomitant]
     Active Substance: METHOTREXATE SODIUM
     Route: 048
  173. METHOTREXATE SODIUM [Concomitant]
     Active Substance: METHOTREXATE SODIUM
     Route: 048
  174. METHOTREXATE SODIUM [Concomitant]
     Active Substance: METHOTREXATE SODIUM
     Route: 048
  175. METHOTREXATE SODIUM [Concomitant]
     Active Substance: METHOTREXATE SODIUM
     Route: 048
  176. METHOTREXATE SODIUM [Concomitant]
     Active Substance: METHOTREXATE SODIUM
     Route: 048
  177. METHOTREXATE SODIUM [Concomitant]
     Active Substance: METHOTREXATE SODIUM
  178. METHOTREXATE SODIUM [Concomitant]
     Active Substance: METHOTREXATE SODIUM
     Route: 048
  179. METHOTREXATE SODIUM [Concomitant]
     Active Substance: METHOTREXATE SODIUM
     Route: 035
  180. METHOTREXATE SODIUM [Concomitant]
     Active Substance: METHOTREXATE SODIUM
     Route: 048
  181. METHOTREXATE SODIUM [Concomitant]
     Active Substance: METHOTREXATE SODIUM
  182. METHOTREXATE SODIUM [Concomitant]
     Active Substance: METHOTREXATE SODIUM
     Route: 048
  183. METHOTREXATE SODIUM [Concomitant]
     Active Substance: METHOTREXATE SODIUM
  184. METHOTREXATE SODIUM [Concomitant]
     Active Substance: METHOTREXATE SODIUM
     Route: 048
  185. METHOTREXATE SODIUM [Concomitant]
     Active Substance: METHOTREXATE SODIUM
     Route: 058
  186. METHOTREXATE SODIUM [Concomitant]
     Active Substance: METHOTREXATE SODIUM
  187. METHOTREXATE SODIUM [Concomitant]
     Active Substance: METHOTREXATE SODIUM
     Route: 048
  188. METHOTREXATE SODIUM [Concomitant]
     Active Substance: METHOTREXATE SODIUM
     Route: 048
  189. METHOTREXATE SODIUM [Concomitant]
     Active Substance: METHOTREXATE SODIUM
  190. METHOTREXATE SODIUM [Concomitant]
     Active Substance: METHOTREXATE SODIUM
     Route: 048
  191. METHOTREXATE SODIUM [Concomitant]
     Active Substance: METHOTREXATE SODIUM
     Route: 058
  192. METHOTREXATE SODIUM [Concomitant]
     Active Substance: METHOTREXATE SODIUM
     Route: 048
  193. METHOTREXATE SODIUM [Concomitant]
     Active Substance: METHOTREXATE SODIUM
     Route: 048
  194. METHOTREXATE SODIUM [Concomitant]
     Active Substance: METHOTREXATE SODIUM
  195. REMICADE [Concomitant]
     Active Substance: INFLIXIMAB
     Indication: Rheumatoid arthritis
     Dosage: 500 MILLIGRAM?THERAPY DURATION- 9 MONTHS
     Route: 042
  196. REMICADE [Concomitant]
     Active Substance: INFLIXIMAB
     Dosage: 500 MILLIGRAM?THERAPY DURATION- 9 MONTHS
     Route: 058
  197. REMICADE [Concomitant]
     Active Substance: INFLIXIMAB
     Dosage: 500 MILLIGRAM?THERAPY DURATION- 9 MONTHS
     Route: 058
  198. REMICADE [Concomitant]
     Active Substance: INFLIXIMAB
     Dosage: 500 MILLIGRAM?THERAPY DURATION- 9 MONTHS
  199. REMICADE [Concomitant]
     Active Substance: INFLIXIMAB
     Dosage: 500 MILLIGRAM?THERAPY DURATION- 9 MONTHS
     Route: 042
  200. REMICADE [Concomitant]
     Active Substance: INFLIXIMAB
     Route: 058
  201. REMICADE [Concomitant]
     Active Substance: INFLIXIMAB
     Dosage: 500 MILLIGRAM?THERAPY DURATION- 9 MONTHS
     Route: 058
  202. REMICADE [Concomitant]
     Active Substance: INFLIXIMAB
     Route: 042
  203. RITUXIMAB [Concomitant]
     Active Substance: RITUXIMAB
     Indication: Rheumatoid arthritis
     Dosage: 1000 MILLIGRAM, BID?THERAPY DURATION- 5MONTHS
     Route: 042
  204. RITUXIMAB [Concomitant]
     Active Substance: RITUXIMAB
     Route: 043
  205. RITUXIMAB [Concomitant]
     Active Substance: RITUXIMAB
     Route: 041
  206. RITUXIMAB [Concomitant]
     Active Substance: RITUXIMAB
     Route: 058
  207. RITUXIMAB [Concomitant]
     Active Substance: RITUXIMAB
  208. RITUXIMAB [Concomitant]
     Active Substance: RITUXIMAB
  209. RITUXIMAB [Concomitant]
     Active Substance: RITUXIMAB
     Route: 042
  210. RITUXIMAB [Concomitant]
     Active Substance: RITUXIMAB
  211. RITUXIMAB [Concomitant]
     Active Substance: RITUXIMAB
     Route: 042
  212. RITUXIMAB [Concomitant]
     Active Substance: RITUXIMAB
     Route: 042
  213. RITUXIMAB [Concomitant]
     Active Substance: RITUXIMAB
     Route: 042
  214. RITUXIMAB [Concomitant]
     Active Substance: RITUXIMAB
     Route: 042
  215. RITUXIMAB [Concomitant]
     Active Substance: RITUXIMAB
     Route: 016
  216. RITUXIMAB [Concomitant]
     Active Substance: RITUXIMAB
     Route: 040
  217. RITUXIMAB [Concomitant]
     Active Substance: RITUXIMAB
     Route: 040
  218. RITUXIMAB [Concomitant]
     Active Substance: RITUXIMAB
     Route: 040
  219. RITUXIMAB [Concomitant]
     Active Substance: RITUXIMAB
     Route: 058
  220. RITUXIMAB [Concomitant]
     Active Substance: RITUXIMAB
  221. SIMPONI [Concomitant]
     Active Substance: GOLIMUMAB
     Indication: Rheumatoid arthritis
     Dosage: 50 MILLIGRAM?THERAPY DURATION- 3MONTHS
     Route: 058
     Dates: start: 201308, end: 201503
  222. SIMPONI [Concomitant]
     Active Substance: GOLIMUMAB
     Dosage: 50 MILLIGRAM?THERAPY DURATION- 3MONTHS
  223. SIMPONI [Concomitant]
     Active Substance: GOLIMUMAB
     Dosage: 50 MILLIGRAM?THERAPY DURATION- 3MONTHS
  224. SIMPONI [Concomitant]
     Active Substance: GOLIMUMAB
     Dosage: 50 MILLIGRAM?THERAPY DURATION- 3MONTHS
     Route: 058
  225. SIMPONI [Concomitant]
     Active Substance: GOLIMUMAB
     Route: 058
  226. SIMPONI [Concomitant]
     Active Substance: GOLIMUMAB
     Route: 058
  227. SIMPONI [Concomitant]
     Active Substance: GOLIMUMAB
     Route: 042
  228. SIMPONI [Concomitant]
     Active Substance: GOLIMUMAB
     Route: 052
  229. SULFASALAZINE [Concomitant]
     Active Substance: SULFASALAZINE
     Indication: Rheumatoid arthritis
     Dosage: UNK
  230. SULFASALAZINE [Concomitant]
     Active Substance: SULFASALAZINE
     Dosage: UNK
     Route: 058
  231. SULFASALAZINE [Concomitant]
     Active Substance: SULFASALAZINE
     Dosage: UNK
     Route: 048
  232. SULFASALAZINE [Concomitant]
     Active Substance: SULFASALAZINE
     Dosage: 2 EVERY 1 DAYS?1 DOSAGE FORM
     Route: 048
  233. SULFASALAZINE [Concomitant]
     Active Substance: SULFASALAZINE
     Dosage: 2 EVERY 1 DAYS
     Route: 048
  234. SULFASALAZINE [Concomitant]
     Active Substance: SULFASALAZINE
     Dosage: 1 EVERY 1 DAYS
     Route: 048
  235. SULFASALAZINE [Concomitant]
     Active Substance: SULFASALAZINE
     Dosage: 2 EVERY 1 DAYS
     Route: 048
  236. SULFASALAZINE [Concomitant]
     Active Substance: SULFASALAZINE
     Dosage: 1 EVERY 1 DAYS
     Route: 048
  237. SULFASALAZINE [Concomitant]
     Active Substance: SULFASALAZINE
     Route: 048
  238. SULFASALAZINE [Concomitant]
     Active Substance: SULFASALAZINE
     Dosage: 1 EVERY 1 DAYS
     Route: 048
  239. SULFASALAZINE [Concomitant]
     Active Substance: SULFASALAZINE
     Dosage: 1 EVERY 1 DAYS
     Route: 048
  240. SULFASALAZINE [Concomitant]
     Active Substance: SULFASALAZINE
     Route: 058
  241. SULFASALAZINE [Concomitant]
     Active Substance: SULFASALAZINE
     Route: 048
  242. SULFASALAZINE [Concomitant]
     Active Substance: SULFASALAZINE
     Route: 048
  243. SULFASALAZINE [Concomitant]
     Active Substance: SULFASALAZINE
     Route: 048
  244. SULFASALAZINE [Concomitant]
     Active Substance: SULFASALAZINE
     Route: 058
  245. SULFASALAZINE [Concomitant]
     Active Substance: SULFASALAZINE
     Route: 058
  246. SULFASALAZINE [Concomitant]
     Active Substance: SULFASALAZINE
     Route: 058
  247. SULFASALAZINE [Concomitant]
     Active Substance: SULFASALAZINE
     Route: 058
  248. SULFASALAZINE [Concomitant]
     Active Substance: SULFASALAZINE
     Route: 058
  249. SULFASALAZINE [Concomitant]
     Active Substance: SULFASALAZINE
     Route: 058
  250. SULFASALAZINE [Concomitant]
     Active Substance: SULFASALAZINE
     Route: 048
  251. RITUXAN [Concomitant]
     Active Substance: RITUXIMAB
     Indication: Product used for unknown indication
     Dosage: 1000 MILLIGRAM, BID
     Route: 042
  252. GOLD [Concomitant]
     Active Substance: GOLD
     Indication: Product used for unknown indication
     Dosage: UNK
  253. LEFLUNOMIDE [Concomitant]
     Active Substance: LEFLUNOMIDE
     Indication: Rheumatoid arthritis
     Dosage: UNK
  254. LEFLUNOMIDE [Concomitant]
     Active Substance: LEFLUNOMIDE
     Dosage: UNK
     Route: 048
  255. LEFLUNOMIDE [Concomitant]
     Active Substance: LEFLUNOMIDE
     Dosage: UNK
  256. LEFLUNOMIDE [Concomitant]
     Active Substance: LEFLUNOMIDE
     Dosage: UNK
  257. LEFLUNOMIDE [Concomitant]
     Active Substance: LEFLUNOMIDE
     Dosage: UNK
     Route: 048
  258. LEFLUNOMIDE [Concomitant]
     Active Substance: LEFLUNOMIDE
     Dosage: UNK
  259. LEFLUNOMIDE [Concomitant]
     Active Substance: LEFLUNOMIDE
     Route: 048
  260. LEFLUNOMIDE [Concomitant]
     Active Substance: LEFLUNOMIDE
  261. PREDNISONE [Concomitant]
     Active Substance: PREDNISONE
     Indication: Rheumatoid arthritis
     Dosage: 20 MILLIGRAM, QD
     Route: 048
  262. PREDNISONE [Concomitant]
     Active Substance: PREDNISONE
     Indication: Systemic lupus erythematosus
     Route: 048
  263. PREDNISONE [Concomitant]
     Active Substance: PREDNISONE
     Indication: Synovitis
     Route: 048
  264. PREDNISONE [Concomitant]
     Active Substance: PREDNISONE
     Indication: Psoriatic arthropathy
     Route: 048
  265. PREDNISONE [Concomitant]
     Active Substance: PREDNISONE
     Indication: Pemphigus
  266. PREDNISONE [Concomitant]
     Active Substance: PREDNISONE
     Indication: Arthralgia
     Route: 048
  267. PREDNISONE [Concomitant]
     Active Substance: PREDNISONE
     Indication: Condition aggravated
     Route: 048
  268. PREDNISONE [Concomitant]
     Active Substance: PREDNISONE
     Route: 048
  269. PREDNISONE [Concomitant]
     Active Substance: PREDNISONE
  270. PREDNISONE [Concomitant]
     Active Substance: PREDNISONE
  271. PREDNISONE [Concomitant]
     Active Substance: PREDNISONE
     Route: 048
  272. PREDNISONE [Concomitant]
     Active Substance: PREDNISONE
     Dosage: 20 MILLIGRAM, QD
     Route: 048
  273. PREDNISONE [Concomitant]
     Active Substance: PREDNISONE
     Dosage: 20 MILLIGRAM, QD
  274. PREDNISONE [Concomitant]
     Active Substance: PREDNISONE
     Dosage: 20 MILLIGRAM, QD
     Route: 048
  275. PREDNISONE [Concomitant]
     Active Substance: PREDNISONE
     Dosage: 20 MILLIGRAM, QD
  276. PREDNISONE [Concomitant]
     Active Substance: PREDNISONE
     Dosage: 20 MILLIGRAM, QD
     Route: 048
  277. PREDNISONE [Concomitant]
     Active Substance: PREDNISONE
     Dosage: 20 MILLIGRAM, QD
     Route: 048
  278. PREDNISONE [Concomitant]
     Active Substance: PREDNISONE
     Dosage: 20 MILLIGRAM, QD
  279. CIMZIA [Concomitant]
     Active Substance: CERTOLIZUMAB PEGOL
     Indication: Rheumatoid arthritis
     Dosage: UNK
     Route: 058
  280. CIMZIA [Concomitant]
     Active Substance: CERTOLIZUMAB PEGOL
     Indication: Psoriasis
     Dosage: UNK
     Route: 058
  281. CIMZIA [Concomitant]
     Active Substance: CERTOLIZUMAB PEGOL
     Dosage: UNK
     Route: 058
  282. CIMZIA [Concomitant]
     Active Substance: CERTOLIZUMAB PEGOL
     Dosage: UNK
     Route: 058
  283. CIMZIA [Concomitant]
     Active Substance: CERTOLIZUMAB PEGOL
     Dosage: UNK
     Route: 005
  284. CIMZIA [Concomitant]
     Active Substance: CERTOLIZUMAB PEGOL
     Dosage: UNK
     Route: 058
  285. CIMZIA [Concomitant]
     Active Substance: CERTOLIZUMAB PEGOL
  286. CIMZIA [Concomitant]
     Active Substance: CERTOLIZUMAB PEGOL
  287. CIMZIA [Concomitant]
     Active Substance: CERTOLIZUMAB PEGOL
  288. CIMZIA [Concomitant]
     Active Substance: CERTOLIZUMAB PEGOL
     Route: 058
  289. CIMZIA [Concomitant]
     Active Substance: CERTOLIZUMAB PEGOL
     Route: 005
  290. CIMZIA [Concomitant]
     Active Substance: CERTOLIZUMAB PEGOL
     Route: 058
  291. CIMZIA [Concomitant]
     Active Substance: CERTOLIZUMAB PEGOL
     Route: 058
  292. CIMZIA [Concomitant]
     Active Substance: CERTOLIZUMAB PEGOL
     Route: 058
  293. CIMZIA [Concomitant]
     Active Substance: CERTOLIZUMAB PEGOL
     Route: 058
  294. CIMZIA [Concomitant]
     Active Substance: CERTOLIZUMAB PEGOL
  295. CIMZIA [Concomitant]
     Active Substance: CERTOLIZUMAB PEGOL
  296. HYDROXYCHLOROQUINE [Concomitant]
     Active Substance: HYDROXYCHLOROQUINE
     Indication: Rheumatoid arthritis
     Dosage: UNK
     Route: 048
  297. HYDROXYCHLOROQUINE [Concomitant]
     Active Substance: HYDROXYCHLOROQUINE
     Dosage: 4 MONTHS
     Route: 058
  298. HYDROXYCHLOROQUINE [Concomitant]
     Active Substance: HYDROXYCHLOROQUINE
  299. HYDROXYCHLOROQUINE [Concomitant]
     Active Substance: HYDROXYCHLOROQUINE
  300. HYDROXYCHLOROQUINE [Concomitant]
     Active Substance: HYDROXYCHLOROQUINE
  301. HYDROXYCHLOROQUINE [Concomitant]
     Active Substance: HYDROXYCHLOROQUINE
     Route: 048
  302. HYDROXYCHLOROQUINE [Concomitant]
     Active Substance: HYDROXYCHLOROQUINE
     Route: 005
  303. HYDROXYCHLOROQUINE [Concomitant]
     Active Substance: HYDROXYCHLOROQUINE
     Route: 016
  304. HYDROXYCHLOROQUINE [Concomitant]
     Active Substance: HYDROXYCHLOROQUINE
  305. HYDROXYCHLOROQUINE [Concomitant]
     Active Substance: HYDROXYCHLOROQUINE
     Route: 048
  306. HYDROXYCHLOROQUINE [Concomitant]
     Active Substance: HYDROXYCHLOROQUINE
     Route: 048
  307. HYDROXYCHLOROQUINE [Concomitant]
     Active Substance: HYDROXYCHLOROQUINE
     Route: 048
  308. HYDROXYCHLOROQUINE [Concomitant]
     Active Substance: HYDROXYCHLOROQUINE
  309. HYDROXYCHLOROQUINE [Concomitant]
     Active Substance: HYDROXYCHLOROQUINE
  310. HYDROXYCHLOROQUINE [Concomitant]
     Active Substance: HYDROXYCHLOROQUINE
  311. HYDROXYCHLOROQUINE [Concomitant]
     Active Substance: HYDROXYCHLOROQUINE
     Route: 048
  312. HYDROXYCHLOROQUINE [Concomitant]
     Active Substance: HYDROXYCHLOROQUINE
     Route: 058
  313. HYDROXYCHLOROQUINE [Concomitant]
     Active Substance: HYDROXYCHLOROQUINE
     Route: 048
  314. HYDROXYCHLOROQUINE [Concomitant]
     Active Substance: HYDROXYCHLOROQUINE
     Route: 048
  315. HYDROXYCHLOROQUINE [Concomitant]
     Active Substance: HYDROXYCHLOROQUINE
  316. HYDROXYCHLOROQUINE [Concomitant]
     Active Substance: HYDROXYCHLOROQUINE
     Route: 048
  317. XELJANZ [Concomitant]
     Active Substance: TOFACITINIB CITRATE
     Indication: Rheumatoid arthritis
     Route: 048
  318. XELJANZ [Concomitant]
     Active Substance: TOFACITINIB CITRATE
     Route: 048
  319. XELJANZ [Concomitant]
     Active Substance: TOFACITINIB CITRATE
     Route: 048
  320. XELJANZ [Concomitant]
     Active Substance: TOFACITINIB CITRATE
  321. XELJANZ [Concomitant]
     Active Substance: TOFACITINIB CITRATE
  322. XELJANZ [Concomitant]
     Active Substance: TOFACITINIB CITRATE
  323. XELJANZ [Concomitant]
     Active Substance: TOFACITINIB CITRATE
  324. XELJANZ [Concomitant]
     Active Substance: TOFACITINIB CITRATE
  325. XELJANZ [Concomitant]
     Active Substance: TOFACITINIB CITRATE
     Route: 048
  326. XELJANZ [Concomitant]
     Active Substance: TOFACITINIB CITRATE
     Route: 048
  327. XELJANZ [Concomitant]
     Active Substance: TOFACITINIB CITRATE
     Route: 048
  328. XELJANZ [Concomitant]
     Active Substance: TOFACITINIB CITRATE
  329. XELJANZ [Concomitant]
     Active Substance: TOFACITINIB CITRATE
     Route: 048
  330. TOFACITINIB CITRATE [Concomitant]
     Active Substance: TOFACITINIB CITRATE
     Indication: Rheumatoid arthritis
     Dosage: 5 MILLIGRAM, BID
  331. TOFACITINIB CITRATE [Concomitant]
     Active Substance: TOFACITINIB CITRATE
     Dosage: 5 MILLIGRAM, BID
  332. TOFACITINIB CITRATE [Concomitant]
     Active Substance: TOFACITINIB CITRATE
     Route: 048
  333. TOFACITINIB CITRATE [Concomitant]
     Active Substance: TOFACITINIB CITRATE
     Route: 048
  334. TOFACITINIB CITRATE [Concomitant]
     Active Substance: TOFACITINIB CITRATE
     Route: 048
  335. TOFACITINIB CITRATE [Concomitant]
     Active Substance: TOFACITINIB CITRATE
     Dosage: 5 MILLIGRAM, BID
  336. TOFACITINIB CITRATE [Concomitant]
     Active Substance: TOFACITINIB CITRATE
     Route: 058
  337. TOFACITINIB CITRATE [Concomitant]
     Active Substance: TOFACITINIB CITRATE
     Dosage: 5 MILLIGRAM, BID
  338. ACETAMINOPHEN [Concomitant]
     Active Substance: ACETAMINOPHEN
     Indication: Rheumatoid arthritis
  339. ACETAMINOPHEN [Concomitant]
     Active Substance: ACETAMINOPHEN
     Indication: Pyrexia
  340. ACETAMINOPHEN [Concomitant]
     Active Substance: ACETAMINOPHEN
     Indication: Pain
  341. ACETAMINOPHEN [Concomitant]
     Active Substance: ACETAMINOPHEN
     Indication: Crohn^s disease
  342. ACETAMINOPHEN [Concomitant]
     Active Substance: ACETAMINOPHEN
  343. ACETAMINOPHEN [Concomitant]
     Active Substance: ACETAMINOPHEN
  344. ACETAMINOPHEN [Concomitant]
     Active Substance: ACETAMINOPHEN
  345. ACETAMINOPHEN [Concomitant]
     Active Substance: ACETAMINOPHEN
  346. ACETAMINOPHEN [Concomitant]
     Active Substance: ACETAMINOPHEN
  347. ACETAMINOPHEN [Concomitant]
     Active Substance: ACETAMINOPHEN
     Route: 048
  348. ACETAMINOPHEN [Concomitant]
     Active Substance: ACETAMINOPHEN
     Indication: Product used for unknown indication
  349. ALENDRONATE SODIUM [Concomitant]
     Active Substance: ALENDRONATE SODIUM
     Indication: Rheumatoid arthritis
  350. ALENDRONATE SODIUM [Concomitant]
     Active Substance: ALENDRONATE SODIUM
     Route: 048
  351. ALENDRONATE SODIUM [Concomitant]
     Active Substance: ALENDRONATE SODIUM
  352. ALENDRONATE SODIUM [Concomitant]
     Active Substance: ALENDRONATE SODIUM
     Route: 016
  353. ALENDRONATE SODIUM [Concomitant]
     Active Substance: ALENDRONATE SODIUM
     Route: 058
  354. ALENDRONATE SODIUM [Concomitant]
     Active Substance: ALENDRONATE SODIUM
     Route: 048
  355. ALENDRONATE SODIUM [Concomitant]
     Active Substance: ALENDRONATE SODIUM
     Route: 048
  356. ALENDRONATE SODIUM [Concomitant]
     Active Substance: ALENDRONATE SODIUM
  357. APREMILAST [Concomitant]
     Active Substance: APREMILAST
     Indication: Rheumatoid arthritis
  358. APREMILAST [Concomitant]
     Active Substance: APREMILAST
  359. APREMILAST [Concomitant]
     Active Substance: APREMILAST
  360. APREMILAST [Concomitant]
     Active Substance: APREMILAST
  361. AZATHIOPRINE SODIUM [Concomitant]
     Active Substance: AZATHIOPRINE SODIUM
     Indication: Product used for unknown indication
  362. CERTOLIZUMAB PEGOL [Concomitant]
     Active Substance: CERTOLIZUMAB PEGOL
     Indication: Rheumatoid arthritis
     Route: 058
  363. CERTOLIZUMAB PEGOL [Concomitant]
     Active Substance: CERTOLIZUMAB PEGOL
     Route: 058
  364. CERTOLIZUMAB PEGOL [Concomitant]
     Active Substance: CERTOLIZUMAB PEGOL
  365. CERTOLIZUMAB PEGOL [Concomitant]
     Active Substance: CERTOLIZUMAB PEGOL
     Route: 005
  366. CERTOLIZUMAB PEGOL [Concomitant]
     Active Substance: CERTOLIZUMAB PEGOL
     Route: 016
  367. CETIRIZINE HYDROCHLORIDE [Concomitant]
     Active Substance: CETIRIZINE HYDROCHLORIDE
     Indication: Rheumatoid arthritis
     Route: 048
  368. CETIRIZINE HYDROCHLORIDE [Concomitant]
     Active Substance: CETIRIZINE HYDROCHLORIDE
     Route: 048
  369. CETIRIZINE HYDROCHLORIDE [Concomitant]
     Active Substance: CETIRIZINE HYDROCHLORIDE
     Route: 005
  370. CETIRIZINE HYDROCHLORIDE [Concomitant]
     Active Substance: CETIRIZINE HYDROCHLORIDE
  371. CETIRIZINE HYDROCHLORIDE [Concomitant]
     Active Substance: CETIRIZINE HYDROCHLORIDE
  372. CETIRIZINE HYDROCHLORIDE [Concomitant]
     Active Substance: CETIRIZINE HYDROCHLORIDE
     Route: 048
  373. CETIRIZINE HYDROCHLORIDE [Concomitant]
     Active Substance: CETIRIZINE HYDROCHLORIDE
     Route: 048
  374. CETIRIZINE HYDROCHLORIDE [Concomitant]
     Active Substance: CETIRIZINE HYDROCHLORIDE
  375. CETIRIZINE HYDROCHLORIDE [Concomitant]
     Active Substance: CETIRIZINE HYDROCHLORIDE
  376. CETIRIZINE HYDROCHLORIDE [Concomitant]
     Active Substance: CETIRIZINE HYDROCHLORIDE
  377. CETIRIZINE HYDROCHLORIDE [Concomitant]
     Active Substance: CETIRIZINE HYDROCHLORIDE
  378. CETIRIZINE HYDROCHLORIDE [Concomitant]
     Active Substance: CETIRIZINE HYDROCHLORIDE
     Route: 048
  379. CETIRIZINE HYDROCHLORIDE [Concomitant]
     Active Substance: CETIRIZINE HYDROCHLORIDE
  380. CETIRIZINE HYDROCHLORIDE [Concomitant]
     Active Substance: CETIRIZINE HYDROCHLORIDE
  381. CETIRIZINE HYDROCHLORIDE [Concomitant]
     Active Substance: CETIRIZINE HYDROCHLORIDE
  382. CETIRIZINE HYDROCHLORIDE [Concomitant]
     Active Substance: CETIRIZINE HYDROCHLORIDE
  383. CETIRIZINE HYDROCHLORIDE [Concomitant]
     Active Substance: CETIRIZINE HYDROCHLORIDE
  384. CETIRIZINE HYDROCHLORIDE [Concomitant]
     Active Substance: CETIRIZINE HYDROCHLORIDE
  385. CETIRIZINE HYDROCHLORIDE [Concomitant]
     Active Substance: CETIRIZINE HYDROCHLORIDE
  386. CETIRIZINE HYDROCHLORIDE [Concomitant]
     Active Substance: CETIRIZINE HYDROCHLORIDE
  387. CETIRIZINE HYDROCHLORIDE [Concomitant]
     Active Substance: CETIRIZINE HYDROCHLORIDE
     Route: 048
  388. CETIRIZINE HYDROCHLORIDE [Concomitant]
     Active Substance: CETIRIZINE HYDROCHLORIDE
  389. COSENTYX [Concomitant]
     Active Substance: SECUKINUMAB
     Indication: Psoriatic arthropathy
  390. COSENTYX [Concomitant]
     Active Substance: SECUKINUMAB
     Indication: Rheumatoid arthritis
  391. COSENTYX [Concomitant]
     Active Substance: SECUKINUMAB
  392. COSENTYX [Concomitant]
     Active Substance: SECUKINUMAB
     Route: 005
  393. COSENTYX [Concomitant]
     Active Substance: SECUKINUMAB
     Route: 005
  394. COSENTYX [Concomitant]
     Active Substance: SECUKINUMAB
     Dosage: COSENTYX PRE FILLED?SYRINGE
  395. COSENTYX [Concomitant]
     Active Substance: SECUKINUMAB
     Dosage: COSENTYX PRE FILLED?SYRINGE
  396. CORTISONE ACETATE [Concomitant]
     Active Substance: CORTISONE ACETATE
     Indication: Rheumatoid arthritis
  397. CORTISONE ACETATE [Concomitant]
     Active Substance: CORTISONE ACETATE
     Route: 048
  398. CORTISONE ACETATE [Concomitant]
     Active Substance: CORTISONE ACETATE
     Route: 048
  399. CORTISONE ACETATE [Concomitant]
     Active Substance: CORTISONE ACETATE
  400. CORTISONE ACETATE [Concomitant]
     Active Substance: CORTISONE ACETATE
     Route: 003
  401. CORTISONE ACETATE [Concomitant]
     Active Substance: CORTISONE ACETATE
     Route: 058
  402. CORTISONE ACETATE [Concomitant]
     Active Substance: CORTISONE ACETATE
     Route: 048
  403. CORTISONE ACETATE [Concomitant]
     Active Substance: CORTISONE ACETATE
  404. CORTISONE ACETATE [Concomitant]
     Active Substance: CORTISONE ACETATE
     Route: 003
  405. CORTISONE ACETATE [Concomitant]
     Active Substance: CORTISONE ACETATE
     Route: 048
  406. CORTISONE ACETATE [Concomitant]
     Active Substance: CORTISONE ACETATE
     Route: 058
  407. CORTISONE ACETATE [Concomitant]
     Active Substance: CORTISONE ACETATE
     Route: 058
  408. DESOXIMETASONE [Concomitant]
     Active Substance: DESOXIMETASONE
     Indication: Rheumatoid arthritis
     Route: 048
  409. DESOXIMETASONE [Concomitant]
     Active Substance: DESOXIMETASONE
     Route: 058
  410. DESOXIMETASONE [Concomitant]
     Active Substance: DESOXIMETASONE
     Route: 048
  411. DESOXIMETASONE [Concomitant]
     Active Substance: DESOXIMETASONE
     Route: 058
  412. DESOXIMETASONE [Concomitant]
     Active Substance: DESOXIMETASONE
     Route: 048
  413. DESOXIMETASONE [Concomitant]
     Active Substance: DESOXIMETASONE
     Route: 048
  414. DESOXIMETASONE [Concomitant]
     Active Substance: DESOXIMETASONE
     Route: 048
  415. DESOXIMETASONE [Concomitant]
     Active Substance: DESOXIMETASONE
     Route: 058
  416. DESOXIMETASONE [Concomitant]
     Active Substance: DESOXIMETASONE
     Route: 048
  417. DESOXIMETASONE [Concomitant]
     Active Substance: DESOXIMETASONE
  418. DESOXIMETASONE [Concomitant]
     Active Substance: DESOXIMETASONE
     Route: 048
  419. DESOXIMETASONE [Concomitant]
     Active Substance: DESOXIMETASONE
     Route: 048
  420. DESOXIMETASONE [Concomitant]
     Active Substance: DESOXIMETASONE
     Route: 048
  421. DESOXIMETASONE [Concomitant]
     Active Substance: DESOXIMETASONE
     Route: 048
  422. DESOXIMETASONE [Concomitant]
     Active Substance: DESOXIMETASONE
     Route: 003
  423. DESOXIMETASONE [Concomitant]
     Active Substance: DESOXIMETASONE
     Route: 058
  424. DESOXIMETASONE [Concomitant]
     Active Substance: DESOXIMETASONE
     Route: 003
  425. DESOXIMETASONE [Concomitant]
     Active Substance: DESOXIMETASONE
     Route: 048
  426. DESOXIMETASONE [Concomitant]
     Active Substance: DESOXIMETASONE
     Route: 003
  427. DESOXIMETASONE [Concomitant]
     Active Substance: DESOXIMETASONE
  428. DESOXIMETASONE [Concomitant]
     Active Substance: DESOXIMETASONE
     Route: 003
  429. DESOXIMETASONE [Concomitant]
     Active Substance: DESOXIMETASONE
     Route: 003
  430. DESOXIMETASONE [Concomitant]
     Active Substance: DESOXIMETASONE
  431. DESOXIMETASONE [Concomitant]
     Active Substance: DESOXIMETASONE
  432. DESOXIMETASONE [Concomitant]
     Active Substance: DESOXIMETASONE
     Route: 048
  433. DESOXIMETASONE [Concomitant]
     Active Substance: DESOXIMETASONE
  434. DICLOFENAC SODIUM [Concomitant]
     Active Substance: DICLOFENAC SODIUM
     Indication: Rheumatoid arthritis
  435. DICLOFENAC SODIUM [Concomitant]
     Active Substance: DICLOFENAC SODIUM
     Route: 058
  436. DICLOFENAC SODIUM [Concomitant]
     Active Substance: DICLOFENAC SODIUM
     Route: 058
  437. DICLOFENAC SODIUM [Concomitant]
     Active Substance: DICLOFENAC SODIUM
  438. DICLOFENAC SODIUM [Concomitant]
     Active Substance: DICLOFENAC SODIUM
     Route: 058
  439. DICLOFENAC SODIUM [Concomitant]
     Active Substance: DICLOFENAC SODIUM
     Route: 058
  440. DICLOFENAC SODIUM [Concomitant]
     Active Substance: DICLOFENAC SODIUM
  441. DICLOFENAC SODIUM [Concomitant]
     Active Substance: DICLOFENAC SODIUM
     Route: 047
  442. DICLOFENAC SODIUM [Concomitant]
     Active Substance: DICLOFENAC SODIUM
  443. DICLOFENAC SODIUM [Concomitant]
     Active Substance: DICLOFENAC SODIUM
  444. DICLOFENAC SODIUM [Concomitant]
     Active Substance: DICLOFENAC SODIUM
     Route: 058
  445. DICLOFENAC SODIUM [Concomitant]
     Active Substance: DICLOFENAC SODIUM
     Route: 047
  446. DICLOFENAC SODIUM [Concomitant]
     Active Substance: DICLOFENAC SODIUM
     Route: 048
  447. DICLOFENAC SODIUM [Concomitant]
     Active Substance: DICLOFENAC SODIUM
  448. DICLOFENAC SODIUM [Concomitant]
     Active Substance: DICLOFENAC SODIUM
  449. DICLOFENAC SODIUM [Concomitant]
     Active Substance: DICLOFENAC SODIUM
  450. FLUMETHASONE PIVALATE [Concomitant]
     Active Substance: FLUMETHASONE PIVALATE
     Indication: Product used for unknown indication
     Route: 058
  451. FLUMETHASONE PIVALATE [Concomitant]
     Active Substance: FLUMETHASONE PIVALATE
  452. FLUMETHASONE PIVALATE [Concomitant]
     Active Substance: FLUMETHASONE PIVALATE
  453. FLUMETHASONE PIVALATE [Concomitant]
     Active Substance: FLUMETHASONE PIVALATE
     Route: 003
  454. ERELZI [Concomitant]
     Active Substance: ETANERCEPT-SZZS
     Indication: Rheumatoid arthritis
     Route: 058
  455. ERELZI [Concomitant]
     Active Substance: ETANERCEPT-SZZS
     Route: 048
  456. ERELZI [Concomitant]
     Active Substance: ETANERCEPT-SZZS
  457. ERELZI [Concomitant]
     Active Substance: ETANERCEPT-SZZS
     Route: 058
  458. ERELZI [Concomitant]
     Active Substance: ETANERCEPT-SZZS
  459. ERELZI [Concomitant]
     Active Substance: ETANERCEPT-SZZS
  460. ERELZI [Concomitant]
     Active Substance: ETANERCEPT-SZZS
  461. FOSAMAX [Concomitant]
     Active Substance: ALENDRONATE SODIUM
     Indication: Rheumatoid arthritis
     Route: 048
  462. FOSAMAX [Concomitant]
     Active Substance: ALENDRONATE SODIUM
     Route: 058
  463. FOSAMAX [Concomitant]
     Active Substance: ALENDRONATE SODIUM
     Route: 005
  464. FOSAMAX [Concomitant]
     Active Substance: ALENDRONATE SODIUM
     Route: 016
  465. FOSAMAX [Concomitant]
     Active Substance: ALENDRONATE SODIUM
  466. FOSAMAX [Concomitant]
     Active Substance: ALENDRONATE SODIUM
  467. FOSAMAX [Concomitant]
     Active Substance: ALENDRONATE SODIUM
  468. FOSAMAX [Concomitant]
     Active Substance: ALENDRONATE SODIUM
     Route: 048
  469. GOLD SODIUM THIOMALATE [Concomitant]
     Active Substance: GOLD SODIUM THIOMALATE
     Indication: Product used for unknown indication
     Dosage: SOLUTION INTRAMUSCULAR
     Route: 030
  470. GOLD SODIUM THIOMALATE [Concomitant]
     Active Substance: GOLD SODIUM THIOMALATE
  471. HYDROCORTISONE ACETATE [Concomitant]
     Active Substance: HYDROCORTISONE ACETATE
     Indication: Rheumatoid arthritis
     Dosage: UNK
     Route: 058
  472. HYDROCORTISONE ACETATE [Concomitant]
     Active Substance: HYDROCORTISONE ACETATE
  473. INFLIXIMAB [Concomitant]
     Active Substance: INFLIXIMAB
     Indication: Rheumatoid arthritis
     Dosage: CYCLICAL
     Route: 042
  474. INFLIXIMAB [Concomitant]
     Active Substance: INFLIXIMAB
     Route: 042
  475. INFLIXIMAB [Concomitant]
     Active Substance: INFLIXIMAB
     Route: 042
  476. INFLIXIMAB [Concomitant]
     Active Substance: INFLIXIMAB
     Route: 040
  477. INFLIXIMAB [Concomitant]
     Active Substance: INFLIXIMAB
     Route: 042
  478. INFLIXIMAB [Concomitant]
     Active Substance: INFLIXIMAB
     Route: 042
  479. INFLIXIMAB [Concomitant]
     Active Substance: INFLIXIMAB
  480. INFLIXIMAB [Concomitant]
     Active Substance: INFLIXIMAB
     Route: 042
  481. INFLIXIMAB [Concomitant]
     Active Substance: INFLIXIMAB
  482. INFLIXIMAB [Concomitant]
     Active Substance: INFLIXIMAB
     Route: 042
  483. INFLIXIMAB [Concomitant]
     Active Substance: INFLIXIMAB
     Route: 042
  484. KEVZARA [Concomitant]
     Active Substance: SARILUMAB
     Indication: Rheumatoid arthritis
     Dosage: UNK
  485. KEVZARA [Concomitant]
     Active Substance: SARILUMAB
     Dosage: UNK
  486. METHYLPREDNISOLONE [Concomitant]
     Active Substance: METHYLPREDNISOLONE
     Indication: Product used for unknown indication
  487. METHYLPREDNISOLONE [Concomitant]
     Active Substance: METHYLPREDNISOLONE
  488. MINOCYCLINE HYDROCHLORIDE [Concomitant]
     Active Substance: MINOCYCLINE HYDROCHLORIDE
     Indication: Rheumatoid arthritis
     Dosage: UNK
  489. MINOCYCLINE HYDROCHLORIDE [Concomitant]
     Active Substance: MINOCYCLINE HYDROCHLORIDE
     Dosage: UNK
  490. MINOCIN [Concomitant]
     Active Substance: MINOCYCLINE HYDROCHLORIDE
     Indication: Rheumatoid arthritis
     Dosage: UNK
  491. MYOCHRYSINE [Concomitant]
     Active Substance: GOLD SODIUM THIOMALATE
     Indication: Rheumatoid arthritis
     Dosage: SOLUTION INTRAMUSCULAR
     Route: 030
  492. NAPROXEN [Concomitant]
     Active Substance: NAPROXEN
     Indication: Rheumatoid arthritis
  493. NAPROXEN [Concomitant]
     Active Substance: NAPROXEN
  494. PSEUDOEPHEDRINE HYDROCHLORIDE [Concomitant]
     Active Substance: PSEUDOEPHEDRINE HYDROCHLORIDE
     Indication: Rheumatoid arthritis
     Dosage: UNK
  495. PSEUDOEPHEDRINE HYDROCHLORIDE [Concomitant]
     Active Substance: PSEUDOEPHEDRINE HYDROCHLORIDE
     Dosage: UNK
  496. PSEUDOEPHEDRINE HYDROCHLORIDE [Concomitant]
     Active Substance: PSEUDOEPHEDRINE HYDROCHLORIDE
     Dosage: UNK
  497. PSEUDOEPHEDRINE HYDROCHLORIDE [Concomitant]
     Active Substance: PSEUDOEPHEDRINE HYDROCHLORIDE
  498. PHTHALYLSULFATHIAZOLE [Concomitant]
     Active Substance: PHTHALYLSULFATHIAZOLE
     Indication: Rheumatoid arthritis
     Dosage: UNK
     Route: 058
  499. PHTHALYLSULFATHIAZOLE [Concomitant]
     Active Substance: PHTHALYLSULFATHIAZOLE
     Dosage: UNK
     Route: 042
  500. PHTHALYLSULFATHIAZOLE [Concomitant]
     Active Substance: PHTHALYLSULFATHIAZOLE
     Dosage: 2 EVERY 1 DAYS
     Route: 048
  501. PHTHALYLSULFATHIAZOLE [Concomitant]
     Active Substance: PHTHALYLSULFATHIAZOLE
     Route: 048
  502. PHTHALYLSULFATHIAZOLE [Concomitant]
     Active Substance: PHTHALYLSULFATHIAZOLE
     Dosage: UNK
  503. PHTHALYLSULFATHIAZOLE [Concomitant]
     Active Substance: PHTHALYLSULFATHIAZOLE
     Route: 048
  504. PHTHALYLSULFATHIAZOLE [Concomitant]
     Active Substance: PHTHALYLSULFATHIAZOLE
     Route: 048
  505. PHTHALYLSULFATHIAZOLE [Concomitant]
     Active Substance: PHTHALYLSULFATHIAZOLE
  506. PHTHALYLSULFATHIAZOLE [Concomitant]
     Active Substance: PHTHALYLSULFATHIAZOLE
     Route: 048
  507. PHTHALYLSULFATHIAZOLE [Concomitant]
     Active Substance: PHTHALYLSULFATHIAZOLE
     Route: 058
  508. PHTHALYLSULFATHIAZOLE [Concomitant]
     Active Substance: PHTHALYLSULFATHIAZOLE
  509. PHTHALYLSULFATHIAZOLE [Concomitant]
     Active Substance: PHTHALYLSULFATHIAZOLE
     Route: 058
  510. PHTHALYLSULFATHIAZOLE [Concomitant]
     Active Substance: PHTHALYLSULFATHIAZOLE
     Route: 048
  511. PHTHALYLSULFATHIAZOLE [Concomitant]
     Active Substance: PHTHALYLSULFATHIAZOLE
     Route: 048
  512. PHTHALYLSULFATHIAZOLE [Concomitant]
     Active Substance: PHTHALYLSULFATHIAZOLE
     Route: 048
  513. PHTHALYLSULFATHIAZOLE [Concomitant]
     Active Substance: PHTHALYLSULFATHIAZOLE
     Route: 048
  514. PHTHALYLSULFATHIAZOLE [Concomitant]
     Active Substance: PHTHALYLSULFATHIAZOLE
     Route: 016
  515. SULFASALAZINE [Concomitant]
     Active Substance: SULFASALAZINE
     Indication: Rheumatoid arthritis
     Dosage: 4 MONTHS
     Route: 048
  516. SULFASALAZINE [Concomitant]
     Active Substance: SULFASALAZINE
     Route: 058
  517. SULFASALAZINE [Concomitant]
     Active Substance: SULFASALAZINE
     Route: 048
  518. SULFASALAZINE [Concomitant]
     Active Substance: SULFASALAZINE
     Route: 058
  519. SULFASALAZINE [Concomitant]
     Active Substance: SULFASALAZINE
     Route: 048
  520. SULFASALAZINE [Concomitant]
     Active Substance: SULFASALAZINE
  521. SULFASALAZINE [Concomitant]
     Active Substance: SULFASALAZINE
     Route: 058
  522. SULFASALAZINE [Concomitant]
     Active Substance: SULFASALAZINE
  523. SULFASALAZINE [Concomitant]
     Active Substance: SULFASALAZINE
     Route: 058
  524. SULFASALAZINE [Concomitant]
     Active Substance: SULFASALAZINE
  525. SULFASALAZINE [Concomitant]
     Active Substance: SULFASALAZINE
  526. SULFASALAZINE [Concomitant]
     Active Substance: SULFASALAZINE
     Route: 058
  527. SULFASALAZINE [Concomitant]
     Active Substance: SULFASALAZINE
     Route: 058
  528. SULFASALAZINE [Concomitant]
     Active Substance: SULFASALAZINE
     Route: 048
  529. SULFASALAZINE [Concomitant]
     Active Substance: SULFASALAZINE
     Route: 048
  530. SULFASALAZINE [Concomitant]
     Active Substance: SULFASALAZINE
     Route: 016
  531. SULFASALAZINE [Concomitant]
     Active Substance: SULFASALAZINE
     Route: 058
  532. SULFASALAZINE [Concomitant]
     Active Substance: SULFASALAZINE
     Route: 048
  533. SULFASALAZINE [Concomitant]
     Active Substance: SULFASALAZINE
     Route: 048
  534. SULFASALAZINE [Concomitant]
     Active Substance: SULFASALAZINE
  535. SIRUKUMAB [Concomitant]
     Active Substance: SIRUKUMAB
     Indication: Product used for unknown indication
  536. STELARA [Concomitant]
     Active Substance: USTEKINUMAB
     Indication: Rheumatoid arthritis
     Dosage: SOLUTION SUBCUTANEOUS
     Route: 058
  537. STELARA [Concomitant]
     Active Substance: USTEKINUMAB
  538. STELARA [Concomitant]
     Active Substance: USTEKINUMAB
     Dosage: SOLUTION SUBCUTANEOUS
     Route: 058
  539. STELARA [Concomitant]
     Active Substance: USTEKINUMAB
     Route: 042
  540. STELARA [Concomitant]
     Active Substance: USTEKINUMAB
  541. STELARA [Concomitant]
     Active Substance: USTEKINUMAB
     Route: 042
  542. STELARA [Concomitant]
     Active Substance: USTEKINUMAB
     Route: 058
  543. TOCILIZUMAB [Concomitant]
     Active Substance: TOCILIZUMAB
     Indication: Rheumatoid arthritis
  544. TOCILIZUMAB [Concomitant]
     Active Substance: TOCILIZUMAB
     Route: 042
  545. TOCILIZUMAB [Concomitant]
     Active Substance: TOCILIZUMAB
     Route: 058
  546. TOCILIZUMAB [Concomitant]
     Active Substance: TOCILIZUMAB
     Route: 016
  547. TOCILIZUMAB [Concomitant]
     Active Substance: TOCILIZUMAB
     Route: 058
  548. TOCILIZUMAB [Concomitant]
     Active Substance: TOCILIZUMAB
  549. TOCILIZUMAB [Concomitant]
     Active Substance: TOCILIZUMAB
     Route: 042
  550. ADALIMUMAB [Concomitant]
     Active Substance: ADALIMUMAB
     Indication: Rheumatoid arthritis
     Route: 058
  551. ADALIMUMAB [Concomitant]
     Active Substance: ADALIMUMAB
     Indication: Psoriatic arthropathy
     Dosage: SOLUTION?SUBCUTANEOUS
     Route: 058
  552. ADALIMUMAB [Concomitant]
     Active Substance: ADALIMUMAB
     Route: 058
  553. ADALIMUMAB [Concomitant]
     Active Substance: ADALIMUMAB
     Route: 042
  554. METHYLPREDNISOLONE SODIUM SUCCINATE [Concomitant]
     Active Substance: METHYLPREDNISOLONE SODIUM SUCCINATE
     Indication: Product used for unknown indication
  555. METHYLPREDNISOLONE SODIUM SUCCINATE [Concomitant]
     Active Substance: METHYLPREDNISOLONE SODIUM SUCCINATE
  556. METHYLPREDNISOLONE SODIUM SUCCINATE [Concomitant]
     Active Substance: METHYLPREDNISOLONE SODIUM SUCCINATE
     Route: 048
  557. TRAMADOL HYDROCHLORIDE [Concomitant]
     Active Substance: TRAMADOL HYDROCHLORIDE
     Indication: Product used for unknown indication
  558. TOFACITINIB [Concomitant]
     Active Substance: TOFACITINIB
     Indication: Rheumatoid arthritis
     Dosage: 2 EVERY 1 DAY
  559. TOFACITINIB [Concomitant]
     Active Substance: TOFACITINIB
     Dosage: 2 EVERY 1 DAY
     Route: 048
  560. TOFACITINIB [Concomitant]
     Active Substance: TOFACITINIB
     Dosage: 2 EVERY 1 DAY
  561. TOFACITINIB [Concomitant]
     Active Substance: TOFACITINIB
  562. DESOGESTREL\ETHINYL ESTRADIOL [Concomitant]
     Active Substance: DESOGESTREL\ETHINYL ESTRADIOL
     Indication: Product used for unknown indication
  563. MINOCYCLINE [Concomitant]
     Active Substance: MINOCYCLINE HYDROCHLORIDE
     Indication: Rheumatoid arthritis
  564. MINOCYCLINE [Concomitant]
     Active Substance: MINOCYCLINE HYDROCHLORIDE
  565. TRAMADOL HYDROCHLORIDE [Concomitant]
     Active Substance: TRAMADOL HYDROCHLORIDE
     Indication: Product used for unknown indication
  566. OTEZLA [Concomitant]
     Active Substance: APREMILAST
     Indication: Rheumatoid arthritis
     Route: 048
  567. OTEZLA [Concomitant]
     Active Substance: APREMILAST
  568. OTEZLA [Concomitant]
     Active Substance: APREMILAST
  569. OTEZLA [Concomitant]
     Active Substance: APREMILAST
  570. OTEZLA [Concomitant]
     Active Substance: APREMILAST
     Route: 048
  571. OTEZLA [Concomitant]
     Active Substance: APREMILAST
     Route: 042
  572. OTEZLA [Concomitant]
     Active Substance: APREMILAST
     Route: 048
  573. OTEZLA [Concomitant]
     Active Substance: APREMILAST
  574. OTEZLA [Concomitant]
     Active Substance: APREMILAST
     Route: 048
  575. OTEZLA [Concomitant]
     Active Substance: APREMILAST
  576. PERIOGARD [Concomitant]
     Active Substance: CHLORHEXIDINE GLUCONATE
     Indication: Rheumatoid arthritis
     Dosage: ROUTE: BUCCAL
     Route: 002
  577. PERIOGARD [Concomitant]
     Active Substance: CHLORHEXIDINE GLUCONATE
  578. SULFAMETHOXAZOLE\TRIMETHOPRIM [Concomitant]
     Active Substance: SULFAMETHOXAZOLE\TRIMETHOPRIM
     Indication: Rheumatoid arthritis
  579. SULFAMETHOXAZOLE\TRIMETHOPRIM [Concomitant]
     Active Substance: SULFAMETHOXAZOLE\TRIMETHOPRIM
     Route: 016
  580. SULFAMETHOXAZOLE\TRIMETHOPRIM [Concomitant]
     Active Substance: SULFAMETHOXAZOLE\TRIMETHOPRIM
     Route: 048
  581. SULFAMETHOXAZOLE\TRIMETHOPRIM [Concomitant]
     Active Substance: SULFAMETHOXAZOLE\TRIMETHOPRIM
     Route: 002
  582. SULFAMETHOXAZOLE\TRIMETHOPRIM [Concomitant]
     Active Substance: SULFAMETHOXAZOLE\TRIMETHOPRIM
     Route: 016
  583. SULFAMETHOXAZOLE\TRIMETHOPRIM [Concomitant]
     Active Substance: SULFAMETHOXAZOLE\TRIMETHOPRIM
     Route: 067
  584. ACETAMINOPHEN AND CODEINE [Concomitant]
     Active Substance: ACETAMINOPHEN\CODEINE PHOSPHATE
     Indication: Rheumatoid arthritis
  585. ALENDRONIC ACID [Concomitant]
     Active Substance: ALENDRONIC ACID
     Indication: Rheumatoid arthritis
     Route: 048
  586. ALENDRONIC ACID [Concomitant]
     Active Substance: ALENDRONIC ACID
     Route: 005
  587. ALENDRONIC ACID [Concomitant]
     Active Substance: ALENDRONIC ACID
     Route: 016
  588. ALENDRONIC ACID [Concomitant]
     Active Substance: ALENDRONIC ACID
  589. ALENDRONIC ACID [Concomitant]
     Active Substance: ALENDRONIC ACID
     Route: 048
  590. ALENDRONIC ACID [Concomitant]
     Active Substance: ALENDRONIC ACID
     Route: 058
  591. ALENDRONIC ACID [Concomitant]
     Active Substance: ALENDRONIC ACID
  592. ALENDRONIC ACID [Concomitant]
     Active Substance: ALENDRONIC ACID
  593. ALENDRONIC ACID [Concomitant]
     Active Substance: ALENDRONIC ACID
  594. ALENDRONIC ACID [Concomitant]
     Active Substance: ALENDRONIC ACID
  595. ALENDRONIC ACID [Concomitant]
     Active Substance: ALENDRONIC ACID
     Route: 016
  596. ATOMOXETINE [Concomitant]
     Active Substance: ATOMOXETINE
     Indication: Migraine
     Route: 048
  597. ATOMOXETINE [Concomitant]
     Active Substance: ATOMOXETINE
  598. ATOMOXETINE [Concomitant]
     Active Substance: ATOMOXETINE
  599. ATOMOXETINE [Concomitant]
     Active Substance: ATOMOXETINE
  600. ATOMOXETINE [Concomitant]
     Active Substance: ATOMOXETINE
  601. BERINERT [Concomitant]
     Active Substance: HUMAN C1-ESTERASE INHIBITOR
     Indication: Product used for unknown indication
  602. BOTULINUM TOXIN TYPE A [Concomitant]
     Active Substance: BOTULINUM TOXIN TYPE A
     Indication: Migraine
     Dosage: POWDER FOR SOLUTION
     Route: 030
  603. BOTULINUM TOXIN TYPE A [Concomitant]
     Active Substance: BOTULINUM TOXIN TYPE A
     Dosage: POWDER FOR?SOLUTION
     Route: 030
  604. BOTULINUM TOXIN TYPE A [Concomitant]
     Active Substance: BOTULINUM TOXIN TYPE A
     Dosage: POWDER AND SOLUTION FOR?SOLUTION FOR INJECTION
  605. BOTULINUM TOXIN TYPE A [Concomitant]
     Active Substance: BOTULINUM TOXIN TYPE A
     Route: 030
  606. BUTRANS [Concomitant]
     Active Substance: BUPRENORPHINE
     Indication: Product used for unknown indication
  607. CANDESARTAN [Concomitant]
     Active Substance: CANDESARTAN
     Indication: Migraine
     Route: 048
  608. CANDESARTAN [Concomitant]
     Active Substance: CANDESARTAN
     Indication: Rheumatoid arthritis
  609. CANDESARTAN [Concomitant]
     Active Substance: CANDESARTAN
     Route: 048
  610. CANDESARTAN [Concomitant]
     Active Substance: CANDESARTAN
  611. CELEBREX [Concomitant]
     Active Substance: CELECOXIB
     Indication: Product used for unknown indication
     Route: 048
  612. CELEBREX [Concomitant]
     Active Substance: CELECOXIB
     Route: 048
  613. CELEBREX [Concomitant]
     Active Substance: CELECOXIB
  614. CELEBREX [Concomitant]
     Active Substance: CELECOXIB
     Route: 048
  615. DICLOFENAC DIETHYLAMINE [Concomitant]
     Active Substance: DICLOFENAC DIETHYLAMINE
     Indication: Product used for unknown indication
  616. DICLOFENAC DIETHYLAMINE [Concomitant]
     Active Substance: DICLOFENAC DIETHYLAMINE
  617. DOMPERIDONE MALEATE [Concomitant]
     Active Substance: DOMPERIDONE MALEATE
     Indication: Product used for unknown indication
  618. DOMPERIDONE MALEATE [Concomitant]
     Active Substance: DOMPERIDONE MALEATE
  619. DOMPERIDONE MALEATE [Concomitant]
     Active Substance: DOMPERIDONE MALEATE
  620. DOMPERIDONE MALEATE [Concomitant]
     Active Substance: DOMPERIDONE MALEATE
  621. DOMPERIDONE MALEATE [Concomitant]
     Active Substance: DOMPERIDONE MALEATE
  622. FLUMETHASONE [Concomitant]
     Active Substance: FLUMETHASONE
     Indication: Product used for unknown indication
  623. HAIR KERATIN AMINO ACIDS GOLD COMPLEX [Concomitant]
     Active Substance: HAIR KERATIN AMINO ACIDS GOLD COMPLEX
     Indication: Product used for unknown indication
  624. GOLIMUMAB [Concomitant]
     Active Substance: GOLIMUMAB
     Indication: Rheumatoid arthritis
  625. GOLIMUMAB [Concomitant]
     Active Substance: GOLIMUMAB
     Indication: Prostatic specific antigen
  626. GOLIMUMAB [Concomitant]
     Active Substance: GOLIMUMAB
     Route: 058
  627. HYDROCORTISONE [Concomitant]
     Active Substance: HYDROCORTISONE
     Indication: Rheumatoid arthritis
  628. HYDROCORTISONE [Concomitant]
     Active Substance: HYDROCORTISONE
  629. HYDROCORTISONE [Concomitant]
     Active Substance: HYDROCORTISONE
     Route: 048
  630. HYDROCORTISONE [Concomitant]
     Active Substance: HYDROCORTISONE
     Route: 003
  631. HYDROCORTISONE [Concomitant]
     Active Substance: HYDROCORTISONE
     Route: 058
  632. HYDROCORTISONE [Concomitant]
     Active Substance: HYDROCORTISONE
     Route: 048
  633. LAMICTAL [Concomitant]
     Active Substance: LAMOTRIGINE
     Indication: Product used for unknown indication
     Route: 048
  634. LAMICTAL [Concomitant]
     Active Substance: LAMOTRIGINE
     Route: 048
  635. LAMICTAL [Concomitant]
     Active Substance: LAMOTRIGINE
     Route: 048
  636. LAMICTAL [Concomitant]
     Active Substance: LAMOTRIGINE
     Route: 048
  637. MEGLUMINE [Concomitant]
     Active Substance: MEGLUMINE
     Indication: Rheumatoid arthritis
     Route: 042
  638. MYRBETRIQ [Concomitant]
     Active Substance: MIRABEGRON
     Indication: Product used for unknown indication
     Dosage: TABLET (EXTENDEDRELEASE)
     Route: 048
  639. MYRBETRIQ [Concomitant]
     Active Substance: MIRABEGRON
  640. MYRBETRIQ [Concomitant]
     Active Substance: MIRABEGRON
  641. MYRBETRIQ [Concomitant]
     Active Substance: MIRABEGRON
  642. NAPROXEN [Concomitant]
     Active Substance: NAPROXEN
     Indication: Rheumatoid arthritis
     Dosage: TABLET (ENTERICCOATED)
  643. NAPROXEN SODIUM [Concomitant]
     Active Substance: NAPROXEN SODIUM
     Indication: Rheumatoid arthritis
  644. NAPROXEN SODIUM [Concomitant]
     Active Substance: NAPROXEN SODIUM
  645. NAPROXEN SODIUM [Concomitant]
     Active Substance: NAPROXEN SODIUM
  646. NUCALA [Concomitant]
     Active Substance: MEPOLIZUMAB
     Indication: Product used for unknown indication
  647. OXYCODONE [Concomitant]
     Active Substance: OXYCODONE
     Indication: Product used for unknown indication
  648. OXYCODONE TEREPHTHALATE [Concomitant]
     Active Substance: OXYCODONE TEREPHTHALATE
     Indication: Product used for unknown indication
  649. OXYCODONE TEREPHTHALATE [Concomitant]
     Active Substance: OXYCODONE TEREPHTHALATE
     Route: 016
  650. PHENYLEPHRINE HYDROCHLORIDE [Concomitant]
     Active Substance: PHENYLEPHRINE HYDROCHLORIDE
     Indication: Rheumatoid arthritis
     Route: 030
  651. RAMIPRIL [Concomitant]
     Active Substance: RAMIPRIL
     Indication: Rheumatoid arthritis
     Route: 016
  652. RAMIPRIL [Concomitant]
     Active Substance: RAMIPRIL
     Route: 040
  653. RAMIPRIL [Concomitant]
     Active Substance: RAMIPRIL
     Route: 042
  654. RAMIPRIL [Concomitant]
     Active Substance: RAMIPRIL
  655. RANITIDINE [Concomitant]
     Active Substance: RANITIDINE
     Indication: Rheumatoid arthritis
  656. CETIRIZINE HYDROCHLORIDE\PSEUDOEPHEDRINE HYDROCHLORIDE [Concomitant]
     Active Substance: CETIRIZINE HYDROCHLORIDE\PSEUDOEPHEDRINE HYDROCHLORIDE
     Indication: Rheumatoid arthritis
     Dosage: TABLET (EXTENDED RELEASE)
  657. CETIRIZINE HYDROCHLORIDE\PSEUDOEPHEDRINE HYDROCHLORIDE [Concomitant]
     Active Substance: CETIRIZINE HYDROCHLORIDE\PSEUDOEPHEDRINE HYDROCHLORIDE
     Route: 042
  658. CETIRIZINE HYDROCHLORIDE\PSEUDOEPHEDRINE HYDROCHLORIDE [Concomitant]
     Active Substance: CETIRIZINE HYDROCHLORIDE\PSEUDOEPHEDRINE HYDROCHLORIDE
  659. CETIRIZINE HYDROCHLORIDE\PSEUDOEPHEDRINE HYDROCHLORIDE [Concomitant]
     Active Substance: CETIRIZINE HYDROCHLORIDE\PSEUDOEPHEDRINE HYDROCHLORIDE
  660. TOPIRAMATE [Concomitant]
     Active Substance: TOPIRAMATE
     Indication: Migraine
  661. TOPIRAMATE [Concomitant]
     Active Substance: TOPIRAMATE
  662. TOPIRAMATE [Concomitant]
     Active Substance: TOPIRAMATE
  663. TOPIRAMATE [Concomitant]
     Active Substance: TOPIRAMATE
  664. TOPIRAMATE [Concomitant]
     Active Substance: TOPIRAMATE
  665. TOPIRAMATE [Concomitant]
     Active Substance: TOPIRAMATE
  666. USTEKINUMAB [Concomitant]
     Active Substance: USTEKINUMAB
     Indication: Product used for unknown indication
     Route: 058
  667. USTEKINUMAB [Concomitant]
     Active Substance: USTEKINUMAB
  668. USTEKINUMAB [Concomitant]
     Active Substance: USTEKINUMAB
     Route: 058
  669. USTEKINUMAB [Concomitant]
     Active Substance: USTEKINUMAB
  670. USTEKINUMAB [Concomitant]
     Active Substance: USTEKINUMAB
     Route: 042
  671. VITAMIN C [Concomitant]
     Active Substance: ASCORBIC ACID
     Indication: Product used for unknown indication
  672. VITAMIN C [Concomitant]
     Active Substance: ASCORBIC ACID
  673. VITAMIN C [Concomitant]
     Active Substance: ASCORBIC ACID
     Dosage: 1000MG STRENGTH
     Route: 016
  674. VITAMIN C [Concomitant]
     Active Substance: ASCORBIC ACID
  675. VITAMIN C [Concomitant]
     Active Substance: ASCORBIC ACID
  676. VITAMIN D3 [Concomitant]
     Active Substance: CHOLECALCIFEROL
     Indication: Product used for unknown indication
  677. APO DICLO [Concomitant]
     Indication: Rheumatoid arthritis
     Dosage: TABLET (ENTERICCOATED
  678. APO DICLO [Concomitant]
     Route: 048
  679. APO DICLO [Concomitant]
     Route: 047
  680. ALENDRONATE SODIUM\CHOLECALCIFEROL [Concomitant]
     Active Substance: ALENDRONATE SODIUM\CHOLECALCIFEROL
     Indication: Rheumatoid arthritis
  681. CALCIUM ASCORBATE [Concomitant]
     Active Substance: CALCIUM ASCORBATE
     Indication: Product used for unknown indication
  682. CALCIUM CARBONATE [Concomitant]
     Active Substance: CALCIUM CARBONATE
     Indication: Product used for unknown indication
  683. CALCIUM CARBONATE [Concomitant]
     Active Substance: CALCIUM CARBONATE
     Route: 016
  684. CALCIUM CARBONATE [Concomitant]
     Active Substance: CALCIUM CARBONATE
     Route: 058
  685. CALCIUM GLUBIONATE [Concomitant]
     Active Substance: CALCIUM GLUBIONATE
     Indication: Product used for unknown indication
     Route: 016
  686. CALCIUM GLUBIONATE [Concomitant]
     Active Substance: CALCIUM GLUBIONATE
  687. CHLORHEXIDINE GLUCONATE [Concomitant]
     Active Substance: CHLORHEXIDINE GLUCONATE
     Indication: Product used for unknown indication
  688. CHLORHEXIDINE GLUCONATE [Concomitant]
     Active Substance: CHLORHEXIDINE GLUCONATE
  689. CORTISONE (HYDROCORTISONE) [Concomitant]
     Active Substance: HYDROCORTISONE
     Indication: Rheumatoid arthritis
     Route: 048
  690. CORTISONE (HYDROCORTISONE) [Concomitant]
     Active Substance: HYDROCORTISONE
  691. CORTISONE (HYDROCORTISONE) [Concomitant]
     Active Substance: HYDROCORTISONE
     Route: 058
  692. CORTISONE (HYDROCORTISONE) [Concomitant]
     Active Substance: HYDROCORTISONE
     Route: 058
  693. CORTISONE (HYDROCORTISONE) [Concomitant]
     Active Substance: HYDROCORTISONE
  694. ZINC [Concomitant]
     Active Substance: ZINC
     Indication: Rheumatoid arthritis
  695. ERGOCALCIFEROL [Concomitant]
     Active Substance: ERGOCALCIFEROL
     Indication: Rheumatoid arthritis
  696. ERGOCALCIFEROL [Concomitant]
     Active Substance: ERGOCALCIFEROL
  697. ERGOCALCIFEROL [Concomitant]
     Active Substance: ERGOCALCIFEROL
  698. MAGNESIUM CITRATE [Concomitant]
     Active Substance: MAGNESIUM CITRATE
     Indication: Product used for unknown indication
  699. THIAMINE HYDROCHLORIDE [Concomitant]
     Active Substance: THIAMINE HYDROCHLORIDE
     Indication: Product used for unknown indication
  700. CYCLOBENZAPRINE HYDROCHLORIDE [Concomitant]
     Active Substance: CYCLOBENZAPRINE HYDROCHLORIDE
     Indication: Product used for unknown indication
  701. CYCLOBENZAPRINE HYDROCHLORIDE [Concomitant]
     Active Substance: CYCLOBENZAPRINE HYDROCHLORIDE
  702. FINACEA [Concomitant]
     Active Substance: AZELAIC ACID
     Indication: Product used for unknown indication
  703. FINACEA [Concomitant]
     Active Substance: AZELAIC ACID
     Route: 048
  704. FLUTICASONE [Concomitant]
     Active Substance: FLUTICASONE
     Indication: Product used for unknown indication
  705. LEVOMILNACIPRAN [Concomitant]
     Active Substance: LEVOMILNACIPRAN
     Indication: Product used for unknown indication
  706. FLUMETHASONE PIVALATE [Concomitant]
     Active Substance: FLUMETHASONE PIVALATE
     Indication: Product used for unknown indication
     Route: 058
  707. FLUMETHASONE PIVALATE [Concomitant]
     Active Substance: FLUMETHASONE PIVALATE
     Route: 003
  708. FLUMETHASONE PIVALATE [Concomitant]
     Active Substance: FLUMETHASONE PIVALATE
  709. DIETARY SUPPLEMENT\HERBALS [Concomitant]
     Active Substance: DIETARY SUPPLEMENT\HERBALS
     Indication: Product used for unknown indication
  710. TRAZODONE [Concomitant]
     Active Substance: TRAZODONE HYDROCHLORIDE
     Indication: Product used for unknown indication
  711. TRETINOIN [Concomitant]
     Active Substance: TRETINOIN
     Indication: Product used for unknown indication
  712. TRETINOIN [Concomitant]
     Active Substance: TRETINOIN
  713. CHOLECALCIFEROL [Concomitant]
     Active Substance: CHOLECALCIFEROL
     Indication: Rheumatoid arthritis
  714. CALCIUM CARBONATE\CALCIUM GLUCONATE\CALCIUM LACTATE [Concomitant]
     Active Substance: CALCIUM CARBONATE\CALCIUM GLUCONATE\CALCIUM LACTATE
     Indication: Product used for unknown indication
  715. ALENDRONATE SODIUM\CHOLECALCIFEROL [Concomitant]
     Active Substance: ALENDRONATE SODIUM\CHOLECALCIFEROL
     Indication: Rheumatoid arthritis
     Route: 048
  716. ALENDRONATE SODIUM\CHOLECALCIFEROL [Concomitant]
     Active Substance: ALENDRONATE SODIUM\CHOLECALCIFEROL
  717. DICLOFENAC POTASSIUM [Concomitant]
     Active Substance: DICLOFENAC POTASSIUM
     Indication: Rheumatoid arthritis
  718. DICLOFENAC POTASSIUM [Concomitant]
     Active Substance: DICLOFENAC POTASSIUM
     Dosage: TABLET (ENTERICCOATED)
  719. CALCIUM CITRATE [Concomitant]
     Active Substance: CALCIUM CITRATE
     Indication: Product used for unknown indication
  720. CETIRIZINE [Concomitant]
     Active Substance: CETIRIZINE HYDROCHLORIDE
     Indication: Rheumatoid arthritis
     Route: 048
  721. CETIRIZINE [Concomitant]
     Active Substance: CETIRIZINE HYDROCHLORIDE
     Route: 048
  722. CETIRIZINE [Concomitant]
     Active Substance: CETIRIZINE HYDROCHLORIDE
  723. CETIRIZINE [Concomitant]
     Active Substance: CETIRIZINE HYDROCHLORIDE
  724. CETIRIZINE [Concomitant]
     Active Substance: CETIRIZINE HYDROCHLORIDE
     Route: 048
  725. CETIRIZINE [Concomitant]
     Active Substance: CETIRIZINE HYDROCHLORIDE
     Route: 048
  726. CETIRIZINE [Concomitant]
     Active Substance: CETIRIZINE HYDROCHLORIDE
     Route: 048
  727. CETIRIZINE [Concomitant]
     Active Substance: CETIRIZINE HYDROCHLORIDE
  728. CETIRIZINE [Concomitant]
     Active Substance: CETIRIZINE HYDROCHLORIDE
  729. CETIRIZINE [Concomitant]
     Active Substance: CETIRIZINE HYDROCHLORIDE
     Route: 048
  730. CETIRIZINE [Concomitant]
     Active Substance: CETIRIZINE HYDROCHLORIDE
     Route: 048
  731. CETIRIZINE [Concomitant]
     Active Substance: CETIRIZINE HYDROCHLORIDE
  732. CETIRIZINE [Concomitant]
     Active Substance: CETIRIZINE HYDROCHLORIDE
  733. CETIRIZINE [Concomitant]
     Active Substance: CETIRIZINE HYDROCHLORIDE
  734. CETIRIZINE [Concomitant]
     Active Substance: CETIRIZINE HYDROCHLORIDE
  735. CETIRIZINE [Concomitant]
     Active Substance: CETIRIZINE HYDROCHLORIDE
  736. CHLORHEXIDINE GLUCONATE\ISOPROPYL ALCOHOL [Concomitant]
     Active Substance: CHLORHEXIDINE GLUCONATE\ISOPROPYL ALCOHOL
     Indication: Product used for unknown indication
  737. CHLORHEXIDINE GLUCONATE\ISOPROPYL ALCOHOL [Concomitant]
     Active Substance: CHLORHEXIDINE GLUCONATE\ISOPROPYL ALCOHOL
     Route: 002
  738. CHLORHEXIDINE GLUCONATE\ISOPROPYL ALCOHOL [Concomitant]
     Active Substance: CHLORHEXIDINE GLUCONATE\ISOPROPYL ALCOHOL
     Route: 048
  739. CHLORHEXIDINE GLUCONATE\ISOPROPYL ALCOHOL [Concomitant]
     Active Substance: CHLORHEXIDINE GLUCONATE\ISOPROPYL ALCOHOL
  740. CHLORHEXIDINE GLUCONATE\ISOPROPYL ALCOHOL [Concomitant]
     Active Substance: CHLORHEXIDINE GLUCONATE\ISOPROPYL ALCOHOL
  741. ISOPROPYL ALCOHOL [Concomitant]
     Active Substance: ISOPROPYL ALCOHOL
     Indication: Product used for unknown indication
     Dosage: LIQUID TOPICAL
  742. ISOPROPYL ALCOHOL [Concomitant]
     Active Substance: ISOPROPYL ALCOHOL
     Dosage: LIQUID TOPICAL
  743. ISOPROPYL ALCOHOL [Concomitant]
     Active Substance: ISOPROPYL ALCOHOL
     Dosage: LIQUID TOPICAL
     Route: 048
  744. ISOPROPYL ALCOHOL [Concomitant]
     Active Substance: ISOPROPYL ALCOHOL
     Dosage: LIQUID TOPICAL
  745. MINOCYCLINE HYDROCHLORIDE [Concomitant]
     Active Substance: MINOCYCLINE HYDROCHLORIDE
     Indication: Product used for unknown indication
  746. NICOTINAMIDE [Concomitant]
     Active Substance: NIACINAMIDE
     Indication: Product used for unknown indication
  747. PLAQUENIL [Concomitant]
     Active Substance: HYDROXYCHLOROQUINE SULFATE
     Indication: Rheumatoid arthritis
  748. RIBOFLAVIN [Concomitant]
     Active Substance: RIBOFLAVIN
     Indication: Product used for unknown indication
  749. DICLOFENAC [Concomitant]
     Active Substance: DICLOFENAC
     Indication: Product used for unknown indication
  750. GOLD SODIUM THIOMALATE [Concomitant]
     Active Substance: GOLD SODIUM THIOMALATE
     Indication: Product used for unknown indication
  751. GOLD SODIUM THIOMALATE [Concomitant]
     Active Substance: GOLD SODIUM THIOMALATE
     Route: 030
  752. GOLD SODIUM THIOMALATE [Concomitant]
     Active Substance: GOLD SODIUM THIOMALATE
     Route: 048
  753. AZATHIOPRINE SODIUM [Concomitant]
     Active Substance: AZATHIOPRINE SODIUM
     Indication: Product used for unknown indication
  754. AZATHIOPRINE SODIUM [Concomitant]
     Active Substance: AZATHIOPRINE SODIUM
  755. CALCIUM [Concomitant]
     Active Substance: CALCIUM
     Indication: Product used for unknown indication
  756. CALCIUM [Concomitant]
     Active Substance: CALCIUM
  757. CALCIUM LACTATE [Concomitant]
     Active Substance: CALCIUM LACTATE
     Indication: Product used for unknown indication
  758. CYANOCOBALAMIN [Concomitant]
     Active Substance: CYANOCOBALAMIN
     Indication: Product used for unknown indication
  759. CYANOCOBALAMIN [Concomitant]
     Active Substance: CYANOCOBALAMIN
     Route: 048
  760. CYANOCOBALAMIN [Concomitant]
     Active Substance: CYANOCOBALAMIN
  761. DICLOFENAC POTASSIUM [Concomitant]
     Active Substance: DICLOFENAC POTASSIUM
     Indication: Rheumatoid arthritis
     Route: 058
  762. DICLOFENAC POTASSIUM [Concomitant]
     Active Substance: DICLOFENAC POTASSIUM
     Route: 058
  763. DICLOFENAC POTASSIUM [Concomitant]
     Active Substance: DICLOFENAC POTASSIUM
     Route: 048
  764. DICLOFENAC POTASSIUM [Concomitant]
     Active Substance: DICLOFENAC POTASSIUM
     Route: 058
  765. DICLOFENAC POTASSIUM [Concomitant]
     Active Substance: DICLOFENAC POTASSIUM
  766. DICLOFENAC POTASSIUM [Concomitant]
     Active Substance: DICLOFENAC POTASSIUM
     Route: 058
  767. DICLOFENAC POTASSIUM [Concomitant]
     Active Substance: DICLOFENAC POTASSIUM
     Route: 047
  768. DICLOFENAC POTASSIUM [Concomitant]
     Active Substance: DICLOFENAC POTASSIUM
     Route: 048
  769. DICLOFENAC POTASSIUM [Concomitant]
     Active Substance: DICLOFENAC POTASSIUM
  770. IRON\VITAMINS [Concomitant]
     Active Substance: IRON\VITAMINS
     Indication: Product used for unknown indication
  771. GLUCOSAMINE [Concomitant]
     Active Substance: GLUCOSAMINE
     Indication: Rheumatoid arthritis
  772. GLUCOSAMINE [Concomitant]
     Active Substance: GLUCOSAMINE
  773. IBUPROFEN [Concomitant]
     Active Substance: IBUPROFEN
     Indication: Product used for unknown indication
  774. LORAZEPAM [Concomitant]
     Active Substance: LORAZEPAM
     Indication: Rheumatoid arthritis
  775. LORAZEPAM [Concomitant]
     Active Substance: LORAZEPAM
  776. MAGNESIUM [Concomitant]
     Active Substance: MAGNESIUM
     Indication: Product used for unknown indication
  777. MAGNESIUM [Concomitant]
     Active Substance: MAGNESIUM
     Route: 048
  778. MAGNESIUM [Concomitant]
     Active Substance: MAGNESIUM
  779. DIETARY SUPPLEMENT\HERBALS [Concomitant]
     Active Substance: DIETARY SUPPLEMENT\HERBALS
     Indication: Product used for unknown indication
     Route: 048
  780. FISH OIL [Concomitant]
     Active Substance: FISH OIL
     Indication: Product used for unknown indication
     Route: 048
  781. TOPAMAX [Concomitant]
     Active Substance: TOPIRAMATE
     Indication: Product used for unknown indication
     Route: 048
  782. TOPAMAX [Concomitant]
     Active Substance: TOPIRAMATE
     Route: 048
  783. TOPAMAX [Concomitant]
     Active Substance: TOPIRAMATE
     Route: 048
  784. TOPAMAX [Concomitant]
     Active Substance: TOPIRAMATE
     Route: 048
  785. TOPAMAX [Concomitant]
     Active Substance: TOPIRAMATE
     Route: 048
  786. TRAMADOL HYDROCHLORIDE [Concomitant]
     Active Substance: TRAMADOL HYDROCHLORIDE
     Indication: Product used for unknown indication
  787. TRAMADOL HYDROCHLORIDE [Concomitant]
     Active Substance: TRAMADOL HYDROCHLORIDE
  788. TRAMADOL HYDROCHLORIDE [Concomitant]
     Active Substance: TRAMADOL HYDROCHLORIDE
  789. DICLOFENAC DIETHYLAMINE [Concomitant]
     Active Substance: DICLOFENAC DIETHYLAMINE
     Indication: Product used for unknown indication
  790. PANTOPRAZOLE SODIUM ANHYDROUS [Concomitant]
     Active Substance: PANTOPRAZOLE SODIUM ANHYDROUS
     Indication: Rheumatoid arthritis
     Route: 048
  791. PANTOPRAZOLE SODIUM ANHYDROUS [Concomitant]
     Active Substance: PANTOPRAZOLE SODIUM ANHYDROUS
  792. PANTOPRAZOLE SODIUM ANHYDROUS [Concomitant]
     Active Substance: PANTOPRAZOLE SODIUM ANHYDROUS
  793. PANTOPRAZOLE SODIUM ANHYDROUS [Concomitant]
     Active Substance: PANTOPRAZOLE SODIUM ANHYDROUS
  794. PANTOPRAZOLE SODIUM ANHYDROUS [Concomitant]
     Active Substance: PANTOPRAZOLE SODIUM ANHYDROUS
  795. PANTOPRAZOLE SODIUM ANHYDROUS [Concomitant]
     Active Substance: PANTOPRAZOLE SODIUM ANHYDROUS
  796. PANTOPRAZOLE SODIUM ANHYDROUS [Concomitant]
     Active Substance: PANTOPRAZOLE SODIUM ANHYDROUS
  797. PANTOPRAZOLE SODIUM ANHYDROUS [Concomitant]
     Active Substance: PANTOPRAZOLE SODIUM ANHYDROUS
  798. PANTOPRAZOLE SODIUM ANHYDROUS [Concomitant]
     Active Substance: PANTOPRAZOLE SODIUM ANHYDROUS
  799. PANTOPRAZOLE SODIUM ANHYDROUS [Concomitant]
     Active Substance: PANTOPRAZOLE SODIUM ANHYDROUS
  800. PANTOPRAZOLE SODIUM ANHYDROUS [Concomitant]
     Active Substance: PANTOPRAZOLE SODIUM ANHYDROUS
     Route: 048
  801. PANTOPRAZOLE SODIUM ANHYDROUS [Concomitant]
     Active Substance: PANTOPRAZOLE SODIUM ANHYDROUS
     Route: 048
  802. APREPITANT [Concomitant]
     Active Substance: APREPITANT
     Indication: Product used for unknown indication
  803. CHLORHEXIDINE [Concomitant]
     Active Substance: CHLORHEXIDINE
     Indication: Rheumatoid arthritis
     Route: 048
  804. CHLORHEXIDINE [Concomitant]
     Active Substance: CHLORHEXIDINE
  805. CHLORHEXIDINE [Concomitant]
     Active Substance: CHLORHEXIDINE
     Route: 002
  806. CHLORHEXIDINE [Concomitant]
     Active Substance: CHLORHEXIDINE
  807. CHLORHEXIDINE [Concomitant]
     Active Substance: CHLORHEXIDINE
     Route: 048
  808. CHLORHEXIDINE [Concomitant]
     Active Substance: CHLORHEXIDINE
  809. CHLORHEXIDINE [Concomitant]
     Active Substance: CHLORHEXIDINE
  810. CHLORHEXIDINE [Concomitant]
     Active Substance: CHLORHEXIDINE
     Route: 058
  811. ZOPICLONE [Concomitant]
     Active Substance: ZOPICLONE
     Indication: Product used for unknown indication
  812. DICLOFENAC [Concomitant]
     Active Substance: DICLOFENAC
     Indication: Product used for unknown indication
  813. OXYCODONE HYDROCHLORIDE [Concomitant]
     Active Substance: OXYCODONE HYDROCHLORIDE
     Indication: Product used for unknown indication
  814. ASACOL [Concomitant]
     Active Substance: MESALAMINE
     Indication: Crohn^s disease
     Dosage: TABLET (ENTERICCOATED)
  815. CELECOXIB [Concomitant]
     Active Substance: CELECOXIB
     Indication: Rheumatoid arthritis
  816. CELECOXIB [Concomitant]
     Active Substance: CELECOXIB
  817. CELECOXIB [Concomitant]
     Active Substance: CELECOXIB
     Route: 048
  818. CELECOXIB [Concomitant]
     Active Substance: CELECOXIB
  819. CELECOXIB [Concomitant]
     Active Substance: CELECOXIB
     Route: 058
  820. CHLORAPREP [Concomitant]
     Active Substance: CHLORHEXIDINE GLUCONATE\ISOPROPYL ALCOHOL
     Indication: Rheumatoid arthritis
     Dosage: SOLUTION
  821. CHLORAPREP [Concomitant]
     Active Substance: CHLORHEXIDINE GLUCONATE\ISOPROPYL ALCOHOL
     Dosage: SOLUTION
  822. CHLORAPREP [Concomitant]
     Active Substance: CHLORHEXIDINE GLUCONATE\ISOPROPYL ALCOHOL
     Route: 048
  823. CHLORAPREP [Concomitant]
     Active Substance: CHLORHEXIDINE GLUCONATE\ISOPROPYL ALCOHOL
  824. CHLORAPREP [Concomitant]
     Active Substance: CHLORHEXIDINE GLUCONATE\ISOPROPYL ALCOHOL
  825. CHLORAPREP [Concomitant]
     Active Substance: CHLORHEXIDINE GLUCONATE\ISOPROPYL ALCOHOL
  826. CHLORAPREP [Concomitant]
     Active Substance: CHLORHEXIDINE GLUCONATE\ISOPROPYL ALCOHOL
  827. CHLORAPREP [Concomitant]
     Active Substance: CHLORHEXIDINE GLUCONATE\ISOPROPYL ALCOHOL
     Route: 058
  828. DILTIAZEM [Concomitant]
     Active Substance: DILTIAZEM
     Indication: Product used for unknown indication
  829. DILTIAZEM HYDROCHLORIDE [Concomitant]
     Active Substance: DILTIAZEM HYDROCHLORIDE
     Indication: Product used for unknown indication
     Route: 042
  830. DILTIAZEM HYDROCHLORIDE [Concomitant]
     Active Substance: DILTIAZEM HYDROCHLORIDE
     Route: 042
  831. DOXYCYCLINE [Concomitant]
     Active Substance: DOXYCYCLINE
     Indication: Rheumatoid arthritis
  832. DOXYCYCLINE [Concomitant]
     Active Substance: DOXYCYCLINE
     Route: 005
  833. DOXYCYCLINE [Concomitant]
     Active Substance: DOXYCYCLINE
  834. DOXYCYCLINE HYCLATE [Concomitant]
     Active Substance: DOXYCYCLINE HYCLATE
     Indication: Rheumatoid arthritis
     Route: 058
  835. DOXYCYCLINE HYCLATE [Concomitant]
     Active Substance: DOXYCYCLINE HYCLATE
  836. DOXYCYCLINE HYCLATE [Concomitant]
     Active Substance: DOXYCYCLINE HYCLATE
  837. PREGABALIN [Concomitant]
     Active Substance: PREGABALIN
     Indication: Product used for unknown indication
  838. CETIRIZINE HYDROCHLORIDE [Concomitant]
     Active Substance: CETIRIZINE HYDROCHLORIDE
     Indication: Urticaria
  839. CETIRIZINE HYDROCHLORIDE [Concomitant]
     Active Substance: CETIRIZINE HYDROCHLORIDE
     Indication: Rheumatoid arthritis
  840. CETIRIZINE HYDROCHLORIDE [Concomitant]
     Active Substance: CETIRIZINE HYDROCHLORIDE
     Route: 048
  841. CETIRIZINE HYDROCHLORIDE [Concomitant]
     Active Substance: CETIRIZINE HYDROCHLORIDE
     Route: 048
  842. CETIRIZINE HYDROCHLORIDE [Concomitant]
     Active Substance: CETIRIZINE HYDROCHLORIDE
  843. NEOMYCIN [Concomitant]
     Active Substance: NEOMYCIN
     Indication: Product used for unknown indication
  844. ENTYVIO [Concomitant]
     Active Substance: VEDOLIZUMAB
     Indication: Product used for unknown indication
  845. PREDNISONE [Concomitant]
     Active Substance: PREDNISONE
     Indication: Rheumatoid arthritis
     Route: 048
  846. PREDNISONE [Concomitant]
     Active Substance: PREDNISONE
  847. ELBASVIR [Concomitant]
     Active Substance: ELBASVIR
     Indication: Rheumatoid arthritis
     Dosage: UNK
  848. HYALURONIDASE (HUMAN RECOMBINANT) [Concomitant]
     Active Substance: HYALURONIDASE (HUMAN RECOMBINANT)
     Indication: Rheumatoid arthritis
     Dosage: UNK
  849. LISINOPRIL [Concomitant]
     Active Substance: LISINOPRIL
     Indication: Product used for unknown indication
     Dosage: UNK
  850. PANTOPRAZOLE [Concomitant]
     Active Substance: PANTOPRAZOLE
     Indication: Product used for unknown indication
     Dosage: UNK
  851. PANTOPRAZOLE [Concomitant]
     Active Substance: PANTOPRAZOLE
     Dosage: UNK
  852. PANTOPRAZOLE [Concomitant]
     Active Substance: PANTOPRAZOLE
     Dosage: UNK
  853. QUETIAPINE [Concomitant]
     Active Substance: QUETIAPINE
     Indication: Product used for unknown indication
     Dosage: UNK
  854. QUETIAPINE FUMARATE [Concomitant]
     Active Substance: QUETIAPINE FUMARATE
     Indication: Product used for unknown indication
     Dosage: UNK
  855. CORTISONE [Concomitant]
     Active Substance: CORTISONE
     Indication: Rheumatoid arthritis
     Route: 003
  856. CORTISONE [Concomitant]
     Active Substance: CORTISONE
     Route: 048
  857. CORTISONE [Concomitant]
     Active Substance: CORTISONE
     Route: 058
  858. CORTISONE [Concomitant]
     Active Substance: CORTISONE
  859. CORTISONE [Concomitant]
     Active Substance: CORTISONE
  860. CORTISONE [Concomitant]
     Active Substance: CORTISONE
  861. CORTISONE [Concomitant]
     Active Substance: CORTISONE
  862. CORTISONE [Concomitant]
     Active Substance: CORTISONE
  863. CORTISONE [Concomitant]
     Active Substance: CORTISONE
  864. HYDROCORTISONE [Concomitant]
     Active Substance: HYDROCORTISONE
     Indication: Rheumatoid arthritis
     Route: 058
  865. HYDROCORTISONE [Concomitant]
     Active Substance: HYDROCORTISONE
  866. HYDROCORTISONE [Concomitant]
     Active Substance: HYDROCORTISONE
     Route: 048
  867. HYDROCORTISONE [Concomitant]
     Active Substance: HYDROCORTISONE
  868. HYDROCORTISONE BUTYRATE [Concomitant]
     Active Substance: HYDROCORTISONE BUTYRATE
     Indication: Rheumatoid arthritis
     Route: 058
  869. HYDROCORTISONE BUTYRATE [Concomitant]
     Active Substance: HYDROCORTISONE BUTYRATE
  870. HYDROCORTISONE SODIUM SUCCINATE [Concomitant]
     Active Substance: HYDROCORTISONE SODIUM SUCCINATE
     Indication: Rheumatoid arthritis
     Route: 058
  871. HYDROCORTISONE SODIUM SUCCINATE [Concomitant]
     Active Substance: HYDROCORTISONE SODIUM SUCCINATE
     Route: 048
  872. HYDROCORTISONE SODIUM SUCCINATE [Concomitant]
     Active Substance: HYDROCORTISONE SODIUM SUCCINATE
  873. HYDROCORTISONE SODIUM SUCCINATE [Concomitant]
     Active Substance: HYDROCORTISONE SODIUM SUCCINATE
     Route: 048
  874. LYRICA [Concomitant]
     Active Substance: PREGABALIN
     Indication: Product used for unknown indication
     Route: 048
  875. LYRICA [Concomitant]
     Active Substance: PREGABALIN
  876. MYCOPHENOLATE MOFETIL [Concomitant]
     Active Substance: MYCOPHENOLATE MOFETIL
     Indication: Rheumatoid arthritis
  877. MYCOPHENOLATE MOFETIL [Concomitant]
     Active Substance: MYCOPHENOLATE MOFETIL
  878. SULFAMETHOXAZOLE [Concomitant]
     Active Substance: SULFAMETHOXAZOLE
     Indication: Rheumatoid arthritis
     Route: 048
  879. SULFAMETHOXAZOLE [Concomitant]
     Active Substance: SULFAMETHOXAZOLE
  880. SULFAMETHOXAZOLE [Concomitant]
     Active Substance: SULFAMETHOXAZOLE
     Route: 048
  881. SULFAMETHOXAZOLE [Concomitant]
     Active Substance: SULFAMETHOXAZOLE
     Route: 058
  882. SULFAMETHOXAZOLE [Concomitant]
     Active Substance: SULFAMETHOXAZOLE
  883. SULFAMETHOXAZOLE [Concomitant]
     Active Substance: SULFAMETHOXAZOLE
     Route: 048
  884. SULFAMETHOXAZOLE [Concomitant]
     Active Substance: SULFAMETHOXAZOLE
     Route: 048
  885. SULFAMETHOXAZOLE [Concomitant]
     Active Substance: SULFAMETHOXAZOLE
  886. SULFAMETHOXAZOLE [Concomitant]
     Active Substance: SULFAMETHOXAZOLE
  887. SULFAMETHOXAZOLE [Concomitant]
     Active Substance: SULFAMETHOXAZOLE
     Route: 048
  888. SULFAMETHOXAZOLE [Concomitant]
     Active Substance: SULFAMETHOXAZOLE
     Route: 048
  889. SULFAMETHOXAZOLE [Concomitant]
     Active Substance: SULFAMETHOXAZOLE
     Route: 048
  890. SULFAMETHOXAZOLE [Concomitant]
     Active Substance: SULFAMETHOXAZOLE
     Route: 048
  891. SULFAMETHOXAZOLE [Concomitant]
     Active Substance: SULFAMETHOXAZOLE
     Route: 048
  892. SULFAMETHOXAZOLE [Concomitant]
     Active Substance: SULFAMETHOXAZOLE
     Route: 048
  893. SULFAMETHOXAZOLE [Concomitant]
     Active Substance: SULFAMETHOXAZOLE
     Route: 048
  894. SULFAMETHOXAZOLE [Concomitant]
     Active Substance: SULFAMETHOXAZOLE
  895. SULFAMETHOXAZOLE [Concomitant]
     Active Substance: SULFAMETHOXAZOLE
     Route: 048
  896. SULFAMETHOXAZOLE [Concomitant]
     Active Substance: SULFAMETHOXAZOLE
  897. SULFAMETHOXAZOLE [Concomitant]
     Active Substance: SULFAMETHOXAZOLE
  898. SULFAMETHOXAZOLE [Concomitant]
     Active Substance: SULFAMETHOXAZOLE
     Route: 048
  899. ASCORBIC ACID [Concomitant]
     Active Substance: ASCORBIC ACID
     Indication: Product used for unknown indication
  900. ATIVAN [Concomitant]
     Active Substance: LORAZEPAM
     Indication: Rheumatoid arthritis
  901. AZATHIOPRINE [Concomitant]
     Active Substance: AZATHIOPRINE
     Indication: Rheumatoid arthritis
     Route: 058
  902. AZATHIOPRINE [Concomitant]
     Active Substance: AZATHIOPRINE
  903. CAFFEINE [Concomitant]
     Active Substance: CAFFEINE
     Indication: Rheumatoid arthritis
     Route: 058
  904. CAFFEINE [Concomitant]
     Active Substance: CAFFEINE
  905. CAFFEINE CITRATE [Concomitant]
     Active Substance: CAFFEINE CITRATE
     Indication: Rheumatoid arthritis
     Route: 048
  906. CAFFEINE CITRATE [Concomitant]
     Active Substance: CAFFEINE CITRATE
  907. CALCIUM GLUCONATE [Concomitant]
     Active Substance: CALCIUM GLUCONATE
     Indication: Product used for unknown indication
  908. CODEINE PHOSPHATE [Concomitant]
     Active Substance: CODEINE PHOSPHATE
     Indication: Rheumatoid arthritis
  909. DIPHENHYDRAMINE [Concomitant]
     Active Substance: DIPHENHYDRAMINE
     Indication: Rheumatoid arthritis
  910. CLIOQUINOL\FLUMETHASONE [Concomitant]
     Active Substance: CLIOQUINOL\FLUMETHASONE
     Indication: Rheumatoid arthritis
  911. CLIOQUINOL\FLUMETHASONE [Concomitant]
     Active Substance: CLIOQUINOL\FLUMETHASONE
  912. MELOXICAM [Concomitant]
     Active Substance: MELOXICAM
     Indication: Product used for unknown indication
     Route: 048
  913. MELOXICAM [Concomitant]
     Active Substance: MELOXICAM
  914. MESALAMINE [Concomitant]
     Active Substance: MESALAMINE
     Indication: Crohn^s disease
     Route: 048
  915. MESALAMINE [Concomitant]
     Active Substance: MESALAMINE
  916. ACETAMINOPHEN\OXYCODONE HYDROCHLORIDE\OXYCODONE TEREPHTHALATE [Concomitant]
     Active Substance: ACETAMINOPHEN\OXYCODONE HYDROCHLORIDE\OXYCODONE TEREPHTHALATE
     Indication: Product used for unknown indication
  917. PARA-AMINOSALICYLIC ACID [Concomitant]
     Active Substance: AMINOSALICYLIC ACID
     Indication: Product used for unknown indication
  918. PIROXICAM [Concomitant]
     Active Substance: PIROXICAM
     Indication: Product used for unknown indication
  919. PIROXICAM [Concomitant]
     Active Substance: PIROXICAM
  920. PREVACID [Concomitant]
     Active Substance: LANSOPRAZOLE
     Indication: Product used for unknown indication
  921. PREVACID [Concomitant]
     Active Substance: LANSOPRAZOLE
  922. DIETARY SUPPLEMENT [Concomitant]
     Active Substance: DIETARY SUPPLEMENT
     Indication: Product used for unknown indication
  923. ALBUTEROL [Concomitant]
     Active Substance: ALBUTEROL
     Indication: Product used for unknown indication
  924. ALBUTEROL SULFATE [Concomitant]
     Active Substance: ALBUTEROL SULFATE
     Indication: Product used for unknown indication
  925. ZESTRIL [Concomitant]
     Active Substance: LISINOPRIL
     Indication: Product used for unknown indication
  926. ACETAMINOPHEN\OXYCODONE HYDROCHLORIDE [Concomitant]
     Active Substance: ACETAMINOPHEN\OXYCODONE HYDROCHLORIDE
     Indication: Product used for unknown indication
  927. ACETAMINOPHEN\OXYCODONE HYDROCHLORIDE [Concomitant]
     Active Substance: ACETAMINOPHEN\OXYCODONE HYDROCHLORIDE
  928. ACETAMINOPHEN\OXYCODONE HYDROCHLORIDE [Concomitant]
     Active Substance: ACETAMINOPHEN\OXYCODONE HYDROCHLORIDE
  929. CETIRIZINE HYDROCHLORIDE\PSEUDOEPHEDRINE HYDROCHLORIDE [Concomitant]
     Active Substance: CETIRIZINE HYDROCHLORIDE\PSEUDOEPHEDRINE HYDROCHLORIDE
     Indication: Rheumatoid arthritis
  930. CETIRIZINE HYDROCHLORIDE\PSEUDOEPHEDRINE HYDROCHLORIDE [Concomitant]
     Active Substance: CETIRIZINE HYDROCHLORIDE\PSEUDOEPHEDRINE HYDROCHLORIDE
  931. CHLORHEXIDINE ACETATE [Concomitant]
     Active Substance: CHLORHEXIDINE ACETATE
     Indication: Product used for unknown indication
     Route: 048
  932. CHLORHEXIDINE ACETATE [Concomitant]
     Active Substance: CHLORHEXIDINE ACETATE
  933. BETAMETHASONE [Concomitant]
     Active Substance: BETAMETHASONE
     Indication: Product used for unknown indication
  934. BETAMETHASONE [Concomitant]
     Active Substance: BETAMETHASONE
  935. BETAMETHASONE [Concomitant]
     Active Substance: BETAMETHASONE
  936. BETAMETHASONE [Concomitant]
     Active Substance: BETAMETHASONE
  937. BUPRENORPHINE HYDROCHLORIDE [Concomitant]
     Active Substance: BUPRENORPHINE HYDROCHLORIDE
     Indication: Product used for unknown indication
  938. DOMPERIDONE [Concomitant]
     Active Substance: DOMPERIDONE
     Indication: Product used for unknown indication
  939. HYDROMORPHONE [Concomitant]
     Active Substance: HYDROMORPHONE
     Indication: Product used for unknown indication
  940. HYDROMORPHONE [Concomitant]
     Active Substance: HYDROMORPHONE
  941. HYDROMORPHONE [Concomitant]
     Active Substance: HYDROMORPHONE
  942. LAMOTRIGINE [Concomitant]
     Active Substance: LAMOTRIGINE
     Indication: Product used for unknown indication
     Route: 048
  943. LAMOTRIGINE [Concomitant]
     Active Substance: LAMOTRIGINE
     Route: 048
  944. LAMOTRIGINE [Concomitant]
     Active Substance: LAMOTRIGINE
  945. LAMOTRIGINE [Concomitant]
     Active Substance: LAMOTRIGINE
     Route: 048
  946. MAGNESIUM HYDROXIDE [Concomitant]
     Active Substance: MAGNESIUM HYDROXIDE
     Indication: Product used for unknown indication
  947. PHOSPHORUS [Concomitant]
     Active Substance: PHOSPHORUS
     Indication: Product used for unknown indication
  948. PSEUDOEPHEDRINE [Concomitant]
     Active Substance: PSEUDOEPHEDRINE
     Indication: Rheumatoid arthritis
  949. PSEUDOEPHEDRINE [Concomitant]
     Active Substance: PSEUDOEPHEDRINE
  950. PSEUDOEPHEDRINE [Concomitant]
     Active Substance: PSEUDOEPHEDRINE
  951. PSEUDOEPHEDRINE [Concomitant]
     Active Substance: PSEUDOEPHEDRINE
  952. CHELATED ZINC [ZINC AMINO ACID CHELATE] [Concomitant]
     Indication: Rheumatoid arthritis
  953. DEXTROMETHORPHAN [Concomitant]
     Active Substance: DEXTROMETHORPHAN
     Indication: Product used for unknown indication
  954. ETANERCEPT [Concomitant]
     Active Substance: ETANERCEPT
     Indication: Rheumatoid arthritis
  955. PHENYLEPHRINE HYDROCHLORIDE [Concomitant]
     Active Substance: PHENYLEPHRINE HYDROCHLORIDE
     Indication: Rheumatoid arthritis
  956. RHEUMATREX [Concomitant]
     Active Substance: METHOTREXATE SODIUM
     Indication: Product used for unknown indication
  957. CHOLECALCIFEROL\RETINOL [Concomitant]
     Active Substance: CHOLECALCIFEROL\RETINOL
     Indication: Product used for unknown indication
  958. NAPROXENO / PARACETAMOL [Concomitant]
     Indication: Rheumatoid arthritis
  959. ERGOCALCIFEROL\RETINOL [Concomitant]
     Active Substance: ERGOCALCIFEROL\RETINOL
     Indication: Product used for unknown indication
  960. ATOMOXETINE HYDROCHLORIDE [Concomitant]
     Active Substance: ATOMOXETINE HYDROCHLORIDE
     Indication: Migraine
  961. ATOMOXETINE HYDROCHLORIDE [Concomitant]
     Active Substance: ATOMOXETINE HYDROCHLORIDE
  962. ATOMOXETINE HYDROCHLORIDE [Concomitant]
     Active Substance: ATOMOXETINE HYDROCHLORIDE
     Route: 005
  963. ATOMOXETINE HYDROCHLORIDE [Concomitant]
     Active Substance: ATOMOXETINE HYDROCHLORIDE
  964. ATOMOXETINE HYDROCHLORIDE [Concomitant]
     Active Substance: ATOMOXETINE HYDROCHLORIDE
     Route: 005
  965. ATOMOXETINE HYDROCHLORIDE [Concomitant]
     Active Substance: ATOMOXETINE HYDROCHLORIDE
  966. ATOMOXETINE HYDROCHLORIDE [Concomitant]
     Active Substance: ATOMOXETINE HYDROCHLORIDE
  967. ATOMOXETINE HYDROCHLORIDE [Concomitant]
     Active Substance: ATOMOXETINE HYDROCHLORIDE
  968. ATOMOXETINE HYDROCHLORIDE [Concomitant]
     Active Substance: ATOMOXETINE HYDROCHLORIDE
  969. ATOMOXETINE HYDROCHLORIDE [Concomitant]
     Active Substance: ATOMOXETINE HYDROCHLORIDE
  970. ACETAMINOPHEN\BUTALBITAL [Concomitant]
     Active Substance: ACETAMINOPHEN\BUTALBITAL
     Indication: Product used for unknown indication
     Route: 048
  971. ACETAMINOPHEN\IBUPROFEN [Concomitant]
     Active Substance: ACETAMINOPHEN\IBUPROFEN
     Indication: Product used for unknown indication
     Route: 048
  972. ACETAMINOPHEN\IBUPROFEN [Concomitant]
     Active Substance: ACETAMINOPHEN\IBUPROFEN
  973. METHOTREXATE [Concomitant]
     Active Substance: METHOTREXATE
     Indication: Rheumatoid arthritis
  974. METHOTREXATE [Concomitant]
     Active Substance: METHOTREXATE
  975. METHOTREXATE [Concomitant]
     Active Substance: METHOTREXATE
     Route: 013
  976. METHOTREXATE [Concomitant]
     Active Substance: METHOTREXATE
     Route: 048
  977. METHOTREXATE [Concomitant]
     Active Substance: METHOTREXATE
     Dosage: EVERY DAYS
  978. METHOTREXATE [Concomitant]
     Active Substance: METHOTREXATE
     Route: 058
  979. METHOTREXATE [Concomitant]
     Active Substance: METHOTREXATE
     Route: 048
  980. METHOTREXATE [Concomitant]
     Active Substance: METHOTREXATE
     Route: 016
  981. METHOTREXATE [Concomitant]
     Active Substance: METHOTREXATE
     Route: 048
  982. METHOTREXATE [Concomitant]
     Active Substance: METHOTREXATE
  983. METHOTREXATE [Concomitant]
     Active Substance: METHOTREXATE
     Route: 058
  984. METHOTREXATE [Concomitant]
     Active Substance: METHOTREXATE
  985. METHOTREXATE [Concomitant]
     Active Substance: METHOTREXATE
     Route: 058
  986. METHOTREXATE [Concomitant]
     Active Substance: METHOTREXATE
     Route: 048
  987. METHOTREXATE [Concomitant]
     Active Substance: METHOTREXATE
  988. METHOTREXATE [Concomitant]
     Active Substance: METHOTREXATE
  989. METHOTREXATE [Concomitant]
     Active Substance: METHOTREXATE
     Route: 048
  990. METHOTREXATE [Concomitant]
     Active Substance: METHOTREXATE
     Route: 013
  991. METHOTREXATE [Concomitant]
     Active Substance: METHOTREXATE
     Route: 048
  992. METHOTREXATE [Concomitant]
     Active Substance: METHOTREXATE
     Route: 058
  993. METHOTREXATE [Concomitant]
     Active Substance: METHOTREXATE
     Route: 048
  994. METHOTREXATE [Concomitant]
     Active Substance: METHOTREXATE
     Route: 048
  995. METHOTREXATE [Concomitant]
     Active Substance: METHOTREXATE
     Route: 048
  996. METHOTREXATE [Concomitant]
     Active Substance: METHOTREXATE
     Route: 048
  997. METHOTREXATE [Concomitant]
     Active Substance: METHOTREXATE
  998. METHOTREXATE [Concomitant]
     Active Substance: METHOTREXATE
  999. METHOTREXATE [Concomitant]
     Active Substance: METHOTREXATE
     Route: 048
  1000. METHOTREXATE [Concomitant]
     Active Substance: METHOTREXATE
     Route: 048
  1001. METHOTREXATE [Concomitant]
     Active Substance: METHOTREXATE
     Route: 058
  1002. METHOTREXATE [Concomitant]
     Active Substance: METHOTREXATE
  1003. METHOTREXATE [Concomitant]
     Active Substance: METHOTREXATE
  1004. METHOTREXATE [Concomitant]
     Active Substance: METHOTREXATE
     Route: 058
  1005. METHOTREXATE [Concomitant]
     Active Substance: METHOTREXATE
     Route: 013
  1006. METHOTREXATE [Concomitant]
     Active Substance: METHOTREXATE
  1007. METHOTREXATE [Concomitant]
     Active Substance: METHOTREXATE
     Route: 048
  1008. METHOTREXATE [Concomitant]
     Active Substance: METHOTREXATE
     Route: 058
  1009. METHOTREXATE [Concomitant]
     Active Substance: METHOTREXATE
     Route: 048
  1010. METHOTREXATE [Concomitant]
     Active Substance: METHOTREXATE
     Route: 048
  1011. METHOTREXATE [Concomitant]
     Active Substance: METHOTREXATE
     Route: 016
  1012. METHOTREXATE [Concomitant]
     Active Substance: METHOTREXATE
     Route: 048
  1013. METHOTREXATE [Concomitant]
     Active Substance: METHOTREXATE
  1014. METHOTREXATE [Concomitant]
     Active Substance: METHOTREXATE
     Route: 052
  1015. METHOTREXATE [Concomitant]
     Active Substance: METHOTREXATE
     Route: 048
  1016. METHOTREXATE [Concomitant]
     Active Substance: METHOTREXATE
     Route: 048
  1017. METHOTREXATE [Concomitant]
     Active Substance: METHOTREXATE
     Route: 016
  1018. METHOTREXATE [Concomitant]
     Active Substance: METHOTREXATE
  1019. METHOTREXATE [Concomitant]
     Active Substance: METHOTREXATE
     Route: 048
  1020. PANTOPRAZOLE SODIUM [Concomitant]
     Active Substance: PANTOPRAZOLE SODIUM
     Indication: Product used for unknown indication
  1021. ALENDRONATE [Concomitant]
     Active Substance: ALENDRONATE SODIUM
     Indication: Product used for unknown indication
     Route: 048
  1022. HYDROXYCHLOROQUINE SULFATE [Concomitant]
     Active Substance: HYDROXYCHLOROQUINE SULFATE
     Indication: Rheumatoid arthritis
  1023. ACETAMINOPHEN [Concomitant]
     Active Substance: ACETAMINOPHEN
     Indication: Product used for unknown indication
  1024. ACETAMINOPHEN\CAFFEINE\CODEINE PHOSPHATE [Concomitant]
     Active Substance: ACETAMINOPHEN\CAFFEINE\CODEINE PHOSPHATE
     Indication: Product used for unknown indication
  1025. CODEINE [Concomitant]
     Active Substance: CODEINE
     Indication: Rheumatoid arthritis
  1026. CORTISONE ACETATE [Concomitant]
     Active Substance: CORTISONE ACETATE
     Indication: Rheumatoid arthritis
  1027. LANSOPRAZOLE [Concomitant]
     Active Substance: LANSOPRAZOLE
     Indication: Rheumatoid arthritis
     Dosage: CAPSULE, DELAYED?RELEASE
  1028. LANSOPRAZOLE [Concomitant]
     Active Substance: LANSOPRAZOLE
     Dosage: CAPSULE, DELAYED?RELEASE
  1029. LEVOTHYROXINE SODIUM [Concomitant]
     Active Substance: LEVOTHYROXINE SODIUM
     Indication: Product used for unknown indication
  1030. LISINOPRIL [Concomitant]
     Active Substance: LISINOPRIL
     Indication: Product used for unknown indication
     Route: 048
  1031. LISINOPRIL [Concomitant]
     Active Substance: LISINOPRIL
  1032. RISEDRONATE SODIUM [Concomitant]
     Active Substance: RISEDRONATE SODIUM
     Indication: Product used for unknown indication
  1033. PREDNISOLONE [Concomitant]
     Active Substance: PREDNISOLONE
     Indication: Product used for unknown indication
  1034. SOLU-MEDROL [Concomitant]
     Active Substance: METHYLPREDNISOLONE SODIUM SUCCINATE
     Indication: Product used for unknown indication
  1035. TOPICORT [Concomitant]
     Active Substance: DESOXIMETASONE
     Indication: Product used for unknown indication
  1036. TYLENOL [Concomitant]
     Active Substance: ACETAMINOPHEN
     Indication: Product used for unknown indication
  1037. TYLENOL WITH CODEINE [Concomitant]
     Active Substance: ACETAMINOPHEN\CODEINE PHOSPHATE
     Indication: Product used for unknown indication
  1038. CODEINE PHOSPHATE [Concomitant]
     Active Substance: CODEINE PHOSPHATE
     Indication: Product used for unknown indication
  1039. ACETAMINOPHEN\CODEINE PHOSPHATE [Concomitant]
     Active Substance: ACETAMINOPHEN\CODEINE PHOSPHATE
     Indication: Product used for unknown indication
  1040. ACETAMINOPHEN\CODEINE PHOSPHATE [Concomitant]
     Active Substance: ACETAMINOPHEN\CODEINE PHOSPHATE
  1041. HYDROMORPHONE HYDROCHLORIDE [Concomitant]
     Active Substance: HYDROMORPHONE HYDROCHLORIDE
     Indication: Product used for unknown indication
  1042. EMEND (FOSAPREPITANT DIMEGLUMINE) [Concomitant]
     Active Substance: FOSAPREPITANT DIMEGLUMINE
     Indication: Product used for unknown indication
     Route: 042
  1043. EMEND (FOSAPREPITANT DIMEGLUMINE) [Concomitant]
     Active Substance: FOSAPREPITANT DIMEGLUMINE
     Route: 048
  1044. EMEND (FOSAPREPITANT DIMEGLUMINE) [Concomitant]
     Active Substance: FOSAPREPITANT DIMEGLUMINE
  1045. EMEND (FOSAPREPITANT DIMEGLUMINE) [Concomitant]
     Active Substance: FOSAPREPITANT DIMEGLUMINE
     Route: 048
  1046. EMEND (FOSAPREPITANT DIMEGLUMINE) [Concomitant]
     Active Substance: FOSAPREPITANT DIMEGLUMINE
  1047. FLUMETHASONE PIVALATE\NEOMYCIN SULFATE [Concomitant]
     Active Substance: FLUMETHASONE PIVALATE\NEOMYCIN SULFATE
     Indication: Rheumatoid arthritis
     Route: 058
  1048. FLUMETHASONE PIVALATE\NEOMYCIN SULFATE [Concomitant]
     Active Substance: FLUMETHASONE PIVALATE\NEOMYCIN SULFATE
  1049. ACETAMINOPHEN\CAFFEINE\CODEINE PHOSPHATE [Concomitant]
     Active Substance: ACETAMINOPHEN\CAFFEINE\CODEINE PHOSPHATE
     Indication: Crohn^s disease
  1050. AMINOSALICYLATE CALCIUM [Concomitant]
     Active Substance: AMINOSALICYLATE CALCIUM
     Indication: Product used for unknown indication
  1051. ETHINYL ESTRADIOL\NORETHINDRONE [Concomitant]
     Active Substance: ETHINYL ESTRADIOL\NORETHINDRONE
     Indication: Product used for unknown indication
  1052. HYALURONIDASE [Concomitant]
     Active Substance: HYALURONIDASE
     Indication: Product used for unknown indication
  1053. MORPHINE [Concomitant]
     Active Substance: MORPHINE
     Indication: Rheumatoid arthritis
     Route: 048
  1054. MORPHINE [Concomitant]
     Active Substance: MORPHINE
  1055. ACETAMINOPHEN\OXYCODONE HYDROCHLORIDE [Concomitant]
     Active Substance: ACETAMINOPHEN\OXYCODONE HYDROCHLORIDE
     Indication: Product used for unknown indication
  1056. ACETAMINOPHEN\OXYCODONE HYDROCHLORIDE [Concomitant]
     Active Substance: ACETAMINOPHEN\OXYCODONE HYDROCHLORIDE
  1057. PANTOPRAZOLE SODIUM [Concomitant]
     Active Substance: PANTOPRAZOLE SODIUM
     Indication: Product used for unknown indication
     Dosage: TABLET (ENTERICCOATED)
  1058. FLUTICASONE FUROATE [Concomitant]
     Active Substance: FLUTICASONE FUROATE
     Indication: Product used for unknown indication
     Dosage: SPRAY, METERED DOSE
  1059. AZELAIC ACID [Concomitant]
     Active Substance: AZELAIC ACID
     Indication: Product used for unknown indication
  1060. AZELAIC ACID [Concomitant]
     Active Substance: AZELAIC ACID
     Route: 005
  1061. BETAMETHASONE VALERATE [Concomitant]
     Active Substance: BETAMETHASONE VALERATE
     Indication: Product used for unknown indication
  1062. BETAMETHASONE VALERATE [Concomitant]
     Active Substance: BETAMETHASONE VALERATE
  1063. BOTOX [Concomitant]
     Active Substance: ONABOTULINUMTOXINA
     Indication: Migraine
     Dosage: POWDER FOR?SOLUTION?INTRAMUSCULAR
  1064. CALCIUM PANTOTHENATE [Concomitant]
     Active Substance: CALCIUM PANTOTHENATE
     Indication: Product used for unknown indication
  1065. CALCIUM\CHOLECALCIFEROL\MAGNESIUM [Concomitant]
     Active Substance: CALCIUM\CHOLECALCIFEROL\MAGNESIUM
     Indication: Product used for unknown indication
  1066. TRICHOLINE CITRATE [Concomitant]
     Active Substance: TRICHOLINE CITRATE
     Indication: Product used for unknown indication
  1067. DOMPERIDONE\PANTOPRAZOLE SODIUM [Concomitant]
     Active Substance: DOMPERIDONE\PANTOPRAZOLE SODIUM
     Indication: Product used for unknown indication
  1068. DOMPERIDONE\PANTOPRAZOLE SODIUM [Concomitant]
     Active Substance: DOMPERIDONE\PANTOPRAZOLE SODIUM
  1069. ERENUMAB [Concomitant]
     Active Substance: ERENUMAB
     Indication: Migraine
  1070. ERENUMAB [Concomitant]
     Active Substance: ERENUMAB
  1071. ERENUMAB [Concomitant]
     Active Substance: ERENUMAB
  1072. ERENUMAB [Concomitant]
     Active Substance: ERENUMAB
  1073. ERENUMAB [Concomitant]
     Active Substance: ERENUMAB
  1074. ERENUMAB [Concomitant]
     Active Substance: ERENUMAB
  1075. FETZIMA [Concomitant]
     Active Substance: LEVOMILNACIPRAN HYDROCHLORIDE
     Indication: Product used for unknown indication
  1076. FETZIMA [Concomitant]
     Active Substance: LEVOMILNACIPRAN HYDROCHLORIDE
  1077. FLUTICASONE FUROATE [Concomitant]
     Active Substance: FLUTICASONE FUROATE
     Indication: Product used for unknown indication
  1078. MAGNESIUM CARBONATE [Concomitant]
     Active Substance: MAGNESIUM CARBONATE
     Indication: Product used for unknown indication
  1079. MILNACIPRAN HYDROCHLORIDE [Concomitant]
     Active Substance: MILNACIPRAN HYDROCHLORIDE
     Indication: Product used for unknown indication
  1080. MILNACIPRAN HYDROCHLORIDE [Concomitant]
     Active Substance: MILNACIPRAN HYDROCHLORIDE
  1081. PAROXETINE [Concomitant]
     Active Substance: PAROXETINE
     Indication: Product used for unknown indication
  1082. PAROXETINE HYDROCHLORIDE [Concomitant]
     Active Substance: PAROXETINE HYDROCHLORIDE
     Indication: Product used for unknown indication
  1083. PREDNICARBATE [Concomitant]
     Active Substance: PREDNICARBATE
     Indication: Product used for unknown indication
  1084. RANITIDINE HYDROCHLORIDE [Concomitant]
     Active Substance: RANITIDINE HYDROCHLORIDE
     Indication: Product used for unknown indication
  1085. STRATTERA [Concomitant]
     Active Substance: ATOMOXETINE HYDROCHLORIDE
     Indication: Migraine
  1086. TRAZODONE HYDROCHLORIDE [Concomitant]
     Active Substance: TRAZODONE HYDROCHLORIDE
     Indication: Product used for unknown indication
  1087. TRAZODONE HYDROCHLORIDE [Concomitant]
     Active Substance: TRAZODONE HYDROCHLORIDE
  1088. TRAZODONE HYDROCHLORIDE [Concomitant]
     Active Substance: TRAZODONE HYDROCHLORIDE
  1089. TUMS [Concomitant]
     Active Substance: CALCIUM CARBONATE
     Indication: Product used for unknown indication
  1090. FLUTICASONE PROPIONATE [Concomitant]
     Active Substance: FLUTICASONE PROPIONATE
     Indication: Product used for unknown indication
  1091. SORBITRATE [Concomitant]
     Active Substance: ISOSORBIDE DINITRATE
     Indication: Product used for unknown indication
  1092. DIETARY SUPPLEMENT\MINERALS\VITAMINS [Concomitant]
     Active Substance: DIETARY SUPPLEMENT\MINERALS\VITAMINS
     Indication: Product used for unknown indication
  1093. PSEUDOEPHEDRINE HYDROCHLORIDE\TRIPROLIDINE HYDROCHLORIDE [Concomitant]
     Active Substance: PSEUDOEPHEDRINE HYDROCHLORIDE\TRIPROLIDINE HYDROCHLORIDE
     Indication: Rheumatoid arthritis
  1094. PSEUDOEPHEDRINE HYDROCHLORIDE\TRIPROLIDINE HYDROCHLORIDE [Concomitant]
     Active Substance: PSEUDOEPHEDRINE HYDROCHLORIDE\TRIPROLIDINE HYDROCHLORIDE
  1095. PSEUDOEPHEDRINE HYDROCHLORIDE\TRIPROLIDINE HYDROCHLORIDE [Concomitant]
     Active Substance: PSEUDOEPHEDRINE HYDROCHLORIDE\TRIPROLIDINE HYDROCHLORIDE
  1096. HYDROCORTISONE PROBUTATE [Concomitant]
     Active Substance: HYDROCORTISONE PROBUTATE
     Indication: Rheumatoid arthritis
  1097. CALCIUM\CHOLECALCIFEROL\COPPER\MAGNESIUM\MANGANESE\ZINC [Concomitant]
     Active Substance: CALCIUM\CHOLECALCIFEROL\COPPER\MAGNESIUM\MANGANESE\ZINC
     Indication: Product used for unknown indication
     Dosage: CHEWABLES
  1098. FOSAPREPITANT DIMEGLUMINE [Concomitant]
     Active Substance: FOSAPREPITANT DIMEGLUMINE
     Indication: Rheumatoid arthritis
  1099. MORPHINE SULFATE [Concomitant]
     Active Substance: MORPHINE SULFATE
     Indication: Rheumatoid arthritis
     Route: 048
  1100. MORPHINE SULFATE [Concomitant]
     Active Substance: MORPHINE SULFATE
  1101. METFORMIN HYDROCHLORIDE [Concomitant]
     Active Substance: METFORMIN HYDROCHLORIDE
     Indication: Product used for unknown indication
     Route: 040
  1102. TETRACYCLINE HYDROCHLORIDE [Concomitant]
     Active Substance: TETRACYCLINE HYDROCHLORIDE
     Indication: Rheumatoid arthritis
  1103. CODEINE SULFATE [Concomitant]
     Active Substance: CODEINE SULFATE
     Indication: Rheumatoid arthritis
     Dosage: TABLET (EXTENDEDRELEASE)
  1104. CODEINE SULFATE [Concomitant]
     Active Substance: CODEINE SULFATE
     Dosage: TABLET (EXTENDEDRELEASE)
  1105. ERYTHROMYCIN [Concomitant]
     Active Substance: ERYTHROMYCIN
     Indication: Product used for unknown indication
  1106. ETHINYL ESTRADIOL [Concomitant]
     Active Substance: ETHINYL ESTRADIOL
     Indication: Product used for unknown indication
  1107. HYDROCORTISONE BUTYRATE [Concomitant]
     Active Substance: HYDROCORTISONE BUTYRATE
     Indication: Rheumatoid arthritis
  1108. MAGNESIUM GLUCONATE [Concomitant]
     Active Substance: MAGNESIUM GLUCONATE
     Indication: Product used for unknown indication
  1109. MAGNESIUM GLUCONATE [Concomitant]
     Active Substance: MAGNESIUM GLUCONATE
     Route: 048
  1110. MAGNESIUM OXIDE [Concomitant]
     Active Substance: MAGNESIUM OXIDE
     Indication: Product used for unknown indication
  1111. PREPARATION H HYDROCORTISONE [Concomitant]
     Active Substance: HYDROCORTISONE
     Indication: Rheumatoid arthritis
     Route: 030
  1112. CINRYZE [Concomitant]
     Active Substance: HUMAN C1-ESTERASE INHIBITOR
     Indication: Product used for unknown indication
     Dosage: SINGLE-USE VIALS, POWDER FOR SOLUTION INTRAVENOUS
  1113. ACETAMINOPHEN\CODEINE PHOSPHATE [Concomitant]
     Active Substance: ACETAMINOPHEN\CODEINE PHOSPHATE
     Indication: Product used for unknown indication
  1114. ALENDRONATE SODIUM\CHOLECALCIFEROL [Concomitant]
     Active Substance: ALENDRONATE SODIUM\CHOLECALCIFEROL
     Indication: Rheumatoid arthritis
     Route: 048
  1115. ALENDRONATE SODIUM\CHOLECALCIFEROL [Concomitant]
     Active Substance: ALENDRONATE SODIUM\CHOLECALCIFEROL
     Indication: Rheumatoid arthritis
  1116. CALCIUM CHLORIDE [Concomitant]
     Active Substance: CALCIUM CHLORIDE
     Indication: Product used for unknown indication
  1117. DOCONEXENT\ICOSAPENT [Concomitant]
     Active Substance: DOCONEXENT\ICOSAPENT
     Indication: Product used for unknown indication
  1118. DOCONEXENT\ICOSAPENT [Concomitant]
     Active Substance: DOCONEXENT\ICOSAPENT
  1119. DEXPANTHENOL [Concomitant]
     Active Substance: DEXPANTHENOL
     Indication: Product used for unknown indication
  1120. DOCONEXENT [Concomitant]
     Active Substance: DOCONEXENT
     Indication: Product used for unknown indication
  1121. ICOSAPENT [Concomitant]
     Active Substance: ICOSAPENT
     Indication: Product used for unknown indication
  1122. LYSINE HYDROCHLORIDE [Concomitant]
     Active Substance: LYSINE HYDROCHLORIDE
     Indication: Product used for unknown indication
  1123. METHYLCOBALAMIN [Concomitant]
     Active Substance: METHYLCOBALAMIN
     Indication: Product used for unknown indication
  1124. PYRIDOXINE HYDROCHLORIDE [Concomitant]
     Active Substance: PYRIDOXINE HYDROCHLORIDE
     Indication: Product used for unknown indication
  1125. IMURAN [Concomitant]
     Active Substance: AZATHIOPRINE
     Indication: Product used for unknown indication
  1126. COCOA BUTTER\PHENYLEPHRINE HYDROCHLORIDE [Concomitant]
     Active Substance: COCOA BUTTER\PHENYLEPHRINE HYDROCHLORIDE
     Indication: Rheumatoid arthritis
  1127. POTASSIUM ASPARTATE [Concomitant]
     Active Substance: POTASSIUM ASPARTATE
     Indication: Product used for unknown indication
  1128. SULFADIAZINE\TRIMETHOPRIM [Concomitant]
     Active Substance: SULFADIAZINE\TRIMETHOPRIM
     Indication: Product used for unknown indication
  1129. VALINE [Concomitant]
     Active Substance: VALINE
     Indication: Product used for unknown indication
  1130. VITAMIN B COMPLEX [NICOTINAMIDE;RIBOFLAVIN;VITAMIN B1 NOS] [Concomitant]
     Indication: Product used for unknown indication
  1131. HYRIMOZ [Concomitant]
     Active Substance: ADALIMUMAB-ADAZ
     Indication: Rheumatoid arthritis
     Route: 058
  1132. HYRIMOZ [Concomitant]
     Active Substance: ADALIMUMAB-ADAZ
     Dosage: SUBDERMAL
  1133. ERENUMAB-AOOE [Concomitant]
     Active Substance: ERENUMAB-AOOE
     Indication: Product used for unknown indication
  1134. APREMILAST [Concomitant]
     Active Substance: APREMILAST
     Indication: Product used for unknown indication
  1135. APREMILAST [Concomitant]
     Active Substance: APREMILAST
  1136. APREMILAST [Concomitant]
     Active Substance: APREMILAST
  1137. DICLOFENAC SODIUM [Concomitant]
     Active Substance: DICLOFENAC SODIUM
     Indication: Rheumatoid arthritis
     Route: 058
  1138. BORAGE OIL [Concomitant]
     Active Substance: BORAGE OIL
     Indication: Synovitis
     Route: 042
  1139. BORAGE OIL [Concomitant]
     Active Substance: BORAGE OIL
     Route: 058
  1140. BORAGE OIL [Concomitant]
     Active Substance: BORAGE OIL
     Route: 058
  1141. HYDROCORTISONE [Concomitant]
     Active Substance: HYDROCORTISONE
     Indication: Rheumatoid arthritis
     Route: 058
  1142. LEFLUNOMIDE [Concomitant]
     Active Substance: LEFLUNOMIDE
     Indication: Rheumatoid arthritis
     Route: 048
  1143. MOXIFLOXACIN HYDROCHLORIDE [Concomitant]
     Active Substance: MOXIFLOXACIN HYDROCHLORIDE
     Indication: Product used for unknown indication
     Dosage: SOLUTION?OPHTHALMIC
     Route: 048
  1144. MOXIFLOXACIN HYDROCHLORIDE [Concomitant]
     Active Substance: MOXIFLOXACIN HYDROCHLORIDE
     Dosage: SOLUTION?OPHTHALMIC
     Route: 048
  1145. MYCOPHENOLATE MOFETIL [Concomitant]
     Active Substance: MYCOPHENOLATE MOFETIL
     Indication: Rheumatoid arthritis
     Route: 048
  1146. PREGABALIN [Concomitant]
     Active Substance: PREGABALIN
     Indication: Product used for unknown indication
     Route: 048
  1147. VITAMIN B12 [Concomitant]
     Active Substance: CYANOCOBALAMIN
     Indication: Product used for unknown indication
  1148. ACETAMINOPHEN\TRAMADOL [Concomitant]
     Active Substance: ACETAMINOPHEN\TRAMADOL
     Indication: Product used for unknown indication
  1149. BENZOCAINE [Concomitant]
     Indication: Product used for unknown indication
  1150. CETRIMONIUM BROMIDE [Concomitant]
     Active Substance: CETRIMONIUM BROMIDE
     Indication: Product used for unknown indication
  1151. CHOLOGRAFIN MEGLUMINE [Concomitant]
     Active Substance: IODIPAMIDE MEGLUMINE
     Indication: Product used for unknown indication
     Dosage: LIQUID?INTRAVENOUS
     Route: 042
  1152. DEXAMETHASONE [Concomitant]
     Active Substance: DEXAMETHASONE
     Indication: Product used for unknown indication
     Route: 048
  1153. MENTHOL\ZINC OXIDE [Concomitant]
     Active Substance: MENTHOL\ZINC OXIDE
     Indication: Product used for unknown indication
  1154. SULFATHIAZOLE [Concomitant]
     Active Substance: SULFATHIAZOLE
     Indication: Product used for unknown indication
  1155. CETRIMIDE [Concomitant]
     Active Substance: CETRIMIDE
     Indication: Product used for unknown indication
  1156. IRON\VITAMINS [Concomitant]
     Active Substance: IRON\VITAMINS
     Indication: Rheumatoid arthritis
  1157. SULFATRIM [Concomitant]
     Active Substance: SULFAMETHOXAZOLE\TRIMETHOPRIM
     Indication: Product used for unknown indication
  1158. ACETAMINOPHEN\TRAMADOL [Concomitant]
     Active Substance: ACETAMINOPHEN\TRAMADOL
     Indication: Product used for unknown indication
  1159. METHYLPREDNISOLONE ACETATE [Concomitant]
     Active Substance: METHYLPREDNISOLONE ACETATE
     Indication: Product used for unknown indication
  1160. NAPROSYN [Concomitant]
     Active Substance: NAPROXEN
     Indication: Product used for unknown indication
  1161. SECUKINUMAB [Concomitant]
     Active Substance: SECUKINUMAB
     Indication: Product used for unknown indication
     Route: 042
  1162. POVIDONE-IODINE [Concomitant]
     Active Substance: POVIDONE-IODINE
     Indication: Product used for unknown indication
  1163. FLONASE ALLERGY RELIEF [Concomitant]
     Active Substance: FLUTICASONE PROPIONATE
     Indication: Product used for unknown indication
  1164. NEOMYCIN SULFATE [Concomitant]
     Active Substance: NEOMYCIN SULFATE
     Indication: Product used for unknown indication
  1165. PANTOPRAZOLE SODIUM [Concomitant]
     Active Substance: PANTOPRAZOLE SODIUM
     Indication: Product used for unknown indication
     Dosage: TABLET (DELAYED-RELEASE)
  1166. ATOMOXETINE HYDROCHLORIDE [Concomitant]
     Active Substance: ATOMOXETINE HYDROCHLORIDE
     Indication: Migraine
  1167. CYCLOBENZAPRINE [Concomitant]
     Active Substance: CYCLOBENZAPRINE
     Indication: Product used for unknown indication
  1168. DESOGESTREL [Concomitant]
     Active Substance: DESOGESTREL
     Indication: Product used for unknown indication
  1169. DEXAMETHASONE SODIUM PHOSPHATE [Concomitant]
     Active Substance: DEXAMETHASONE SODIUM PHOSPHATE
     Indication: Product used for unknown indication
  1170. ERGOCALCIFEROL/ZINC OXIDE [Concomitant]
     Indication: Product used for unknown indication
  1171. TRIAMCINOLONE [Concomitant]
     Active Substance: TRIAMCINOLONE
     Indication: Product used for unknown indication
  1172. BUPRENORPHINE [Concomitant]
     Active Substance: BUPRENORPHINE
     Indication: Product used for unknown indication
  1173. PSEUDOEPHEDRINE HYDROCHLORIDE [Concomitant]
     Active Substance: PSEUDOEPHEDRINE HYDROCHLORIDE
     Indication: Rheumatoid arthritis
  1174. PSEUDOEPHEDRINE HYDROCHLORIDE [Concomitant]
     Active Substance: PSEUDOEPHEDRINE HYDROCHLORIDE
  1175. PSEUDOEPHEDRINE HYDROCHLORIDE [Concomitant]
     Active Substance: PSEUDOEPHEDRINE HYDROCHLORIDE
  1176. COD LIVER OIL [Concomitant]
     Active Substance: COD LIVER OIL
     Indication: Product used for unknown indication
  1177. IODINE [Concomitant]
     Active Substance: IODINE
     Indication: Product used for unknown indication
  1178. ONEALFA [Concomitant]
     Active Substance: ALFACALCIDOL
     Indication: Product used for unknown indication
  1179. CHLORHEXIDINE GLUCONATE\CLOTRIMAZOLE\ISOPROPYL ALCOHOL [Concomitant]
     Active Substance: CHLORHEXIDINE GLUCONATE\CLOTRIMAZOLE\ISOPROPYL ALCOHOL
     Indication: Product used for unknown indication
  1180. HUMAN C1-ESTERASE INHIBITOR [Concomitant]
     Active Substance: HUMAN C1-ESTERASE INHIBITOR
     Indication: Product used for unknown indication
  1181. CALCIUM GLUCONATE\CALCIUM LACTATE [Concomitant]
     Active Substance: CALCIUM GLUCONATE\CALCIUM LACTATE
     Indication: Product used for unknown indication
  1182. CLONIDINE HYDROCHLORIDE [Concomitant]
     Active Substance: CLONIDINE HYDROCHLORIDE
     Indication: Product used for unknown indication
  1183. SULFISOMIDINE [Concomitant]
     Active Substance: SULFISOMIDINE
     Indication: Product used for unknown indication
  1184. FRAMYCETIN SULFATE [Concomitant]
     Active Substance: FRAMYCETIN SULFATE
     Indication: Product used for unknown indication
  1185. GRAMICIDIN [Concomitant]
     Active Substance: GRAMICIDIN
     Indication: Product used for unknown indication
  1186. NITROFURAZONE [Concomitant]
     Active Substance: NITROFURAZONE
     Indication: Product used for unknown indication
     Route: 048
  1187. NITROFURAZONE [Concomitant]
     Active Substance: NITROFURAZONE
     Route: 048
  1188. THYMOL [Concomitant]
     Active Substance: THYMOL
     Indication: Product used for unknown indication
     Route: 048
  1189. THYMOL [Concomitant]
     Active Substance: THYMOL
  1190. TRICLOSAN [Concomitant]
     Active Substance: TRICLOSAN
     Indication: Product used for unknown indication
  1191. BIOFLAVONOIDS [Concomitant]
     Active Substance: BIOFLAVONOIDS
     Indication: Product used for unknown indication
  1192. TYROTHRICIN [Concomitant]
     Active Substance: TYROTHRICIN
     Indication: Product used for unknown indication
     Route: 048
  1193. TYROTHRICIN [Concomitant]
     Active Substance: TYROTHRICIN
     Route: 048
  1194. ACTEMRA [Concomitant]
     Active Substance: TOCILIZUMAB
     Indication: Rheumatoid arthritis
     Route: 058
  1195. ACTEMRA [Concomitant]
     Active Substance: TOCILIZUMAB
     Route: 016
  1196. ACTEMRA [Concomitant]
     Active Substance: TOCILIZUMAB
     Route: 042
  1197. ACTEMRA [Concomitant]
     Active Substance: TOCILIZUMAB
  1198. ACTEMRA [Concomitant]
     Active Substance: TOCILIZUMAB
  1199. ACTEMRA [Concomitant]
     Active Substance: TOCILIZUMAB
     Route: 048
  1200. ACTEMRA [Concomitant]
     Active Substance: TOCILIZUMAB
     Dosage: 8 MILLIGRAM/KILOGRAM?THERAPY DURATION-6 MONTHS
     Route: 042
     Dates: start: 201404, end: 20150819
  1201. ACTEMRA [Concomitant]
     Active Substance: TOCILIZUMAB
     Route: 040
  1202. ACTEMRA [Concomitant]
     Active Substance: TOCILIZUMAB
     Route: 040
  1203. ACTEMRA [Concomitant]
     Active Substance: TOCILIZUMAB
     Route: 058
  1204. ACTEMRA [Concomitant]
     Active Substance: TOCILIZUMAB
  1205. ACTEMRA [Concomitant]
     Active Substance: TOCILIZUMAB
     Route: 042
  1206. ACTEMRA [Concomitant]
     Active Substance: TOCILIZUMAB
  1207. ACTEMRA [Concomitant]
     Active Substance: TOCILIZUMAB
     Route: 040
  1208. ACTEMRA [Concomitant]
     Active Substance: TOCILIZUMAB
     Route: 042
  1209. ACTEMRA [Concomitant]
     Active Substance: TOCILIZUMAB
     Route: 042
  1210. ACTEMRA [Concomitant]
     Active Substance: TOCILIZUMAB
     Route: 058
  1211. ACTEMRA [Concomitant]
     Active Substance: TOCILIZUMAB
     Dosage: 8.0 FEMTOGRAM
     Route: 058
  1212. ACTEMRA [Concomitant]
     Active Substance: TOCILIZUMAB
     Route: 058
  1213. ACTEMRA [Concomitant]
     Active Substance: TOCILIZUMAB
  1214. ACTEMRA [Concomitant]
     Active Substance: TOCILIZUMAB
     Route: 042
  1215. ACTEMRA [Concomitant]
     Active Substance: TOCILIZUMAB
     Route: 058
  1216. ACTEMRA [Concomitant]
     Active Substance: TOCILIZUMAB
     Route: 058
  1217. ACTEMRA [Concomitant]
     Active Substance: TOCILIZUMAB
     Route: 058
  1218. ACTEMRA [Concomitant]
     Active Substance: TOCILIZUMAB
     Route: 058
  1219. ACTEMRA [Concomitant]
     Active Substance: TOCILIZUMAB
  1220. ACTEMRA [Concomitant]
     Active Substance: TOCILIZUMAB
     Route: 058
  1221. ACTEMRA [Concomitant]
     Active Substance: TOCILIZUMAB
     Route: 042
  1222. ACTEMRA [Concomitant]
     Active Substance: TOCILIZUMAB
     Route: 058
  1223. ACTEMRA [Concomitant]
     Active Substance: TOCILIZUMAB
     Route: 058
  1224. ACTEMRA [Concomitant]
     Active Substance: TOCILIZUMAB
     Route: 058
  1225. ACTEMRA [Concomitant]
     Active Substance: TOCILIZUMAB
     Route: 058
  1226. ACTEMRA [Concomitant]
     Active Substance: TOCILIZUMAB
  1227. ACTEMRA [Concomitant]
     Active Substance: TOCILIZUMAB
  1228. ACTEMRA [Concomitant]
     Active Substance: TOCILIZUMAB
     Route: 040
  1229. ACTEMRA [Concomitant]
     Active Substance: TOCILIZUMAB
     Route: 042
  1230. ACTEMRA [Concomitant]
     Active Substance: TOCILIZUMAB
  1231. ACTEMRA [Concomitant]
     Active Substance: TOCILIZUMAB
  1232. ACTEMRA [Concomitant]
     Active Substance: TOCILIZUMAB
  1233. ACTEMRA [Concomitant]
     Active Substance: TOCILIZUMAB
  1234. ACTEMRA [Concomitant]
     Active Substance: TOCILIZUMAB
  1235. ACTEMRA [Concomitant]
     Active Substance: TOCILIZUMAB
  1236. ACTEMRA [Concomitant]
     Active Substance: TOCILIZUMAB
  1237. SALICYLIC ACID [Concomitant]
     Active Substance: SALICYLIC ACID
     Indication: Product used for unknown indication
  1238. ADVIL [Concomitant]
     Active Substance: IBUPROFEN
     Indication: Product used for unknown indication
  1239. ARAVA [Concomitant]
     Active Substance: LEFLUNOMIDE
     Indication: Rheumatoid arthritis
     Route: 048
  1240. ARAVA [Concomitant]
     Active Substance: LEFLUNOMIDE
     Route: 048
  1241. ARAVA [Concomitant]
     Active Substance: LEFLUNOMIDE
     Dosage: 20 MILLIGRAM, QD 1 EVERY 24 HOUR
     Route: 048
  1242. ARAVA [Concomitant]
     Active Substance: LEFLUNOMIDE
     Dosage: UNK
  1243. ARAVA [Concomitant]
     Active Substance: LEFLUNOMIDE
     Dosage: 20 MILLIGRAM, QD
     Route: 048
  1244. ARAVA [Concomitant]
     Active Substance: LEFLUNOMIDE
  1245. ARAVA [Concomitant]
     Active Substance: LEFLUNOMIDE
     Route: 005
  1246. ARAVA [Concomitant]
     Active Substance: LEFLUNOMIDE
     Route: 019
  1247. ARAVA [Concomitant]
     Active Substance: LEFLUNOMIDE
  1248. ARAVA [Concomitant]
     Active Substance: LEFLUNOMIDE
  1249. DIPHENHYDRAMINE HYDROCHLORIDE [Concomitant]
     Active Substance: DIPHENHYDRAMINE HYDROCHLORIDE
     Indication: Product used for unknown indication
  1250. ENBREL [Concomitant]
     Active Substance: ETANERCEPT
     Indication: Rheumatoid arthritis
     Route: 058
  1251. ENBREL [Concomitant]
     Active Substance: ETANERCEPT
     Dosage: 50 MILLIGRAM, QWK?THERAPY DURATION- 12 MONTHS
     Route: 058
  1252. ENBREL [Concomitant]
     Active Substance: ETANERCEPT
     Dosage: 50 MILLIGRAM, QWK?THERAPY DURATION- 12 MONTHS
     Route: 058
  1253. ENBREL [Concomitant]
     Active Substance: ETANERCEPT
     Dosage: 50 MILLIGRAM, QWK?THERAPY DURATION- 12 MONTHS
  1254. ENBREL [Concomitant]
     Active Substance: ETANERCEPT
     Dosage: 50 MILLIGRAM, QWK?THERAPY DURATION- 12 MONTHS
     Route: 058
  1255. ENBREL [Concomitant]
     Active Substance: ETANERCEPT
     Dosage: 5 MONTHS DURATION
  1256. ENBREL [Concomitant]
     Active Substance: ETANERCEPT
     Dosage: 50 MILLIGRAM, QWK?THERAPY DURATION- 12 MONTHS
     Route: 058
  1257. ENBREL [Concomitant]
     Active Substance: ETANERCEPT
     Route: 058
  1258. ENBREL [Concomitant]
     Active Substance: ETANERCEPT
     Route: 058
  1259. ENBREL [Concomitant]
     Active Substance: ETANERCEPT
     Route: 058
  1260. ENBREL [Concomitant]
     Active Substance: ETANERCEPT
     Route: 058
  1261. ENBREL [Concomitant]
     Active Substance: ETANERCEPT
     Route: 058
  1262. ENBREL [Concomitant]
     Active Substance: ETANERCEPT
  1263. ENBREL [Concomitant]
     Active Substance: ETANERCEPT
     Route: 058
  1264. ENBREL [Concomitant]
     Active Substance: ETANERCEPT
     Route: 048
  1265. ENBREL [Concomitant]
     Active Substance: ETANERCEPT
     Route: 058
  1266. ENBREL [Concomitant]
     Active Substance: ETANERCEPT
     Route: 058
  1267. FLUOROMETHOLONE [Concomitant]
     Active Substance: FLUOROMETHOLONE
     Indication: Product used for unknown indication
  1268. AIMOVIG [Concomitant]
     Active Substance: ERENUMAB-AOOE
     Indication: Migraine
  1269. BENFOTIAMINE [Concomitant]
     Active Substance: BENFOTIAMINE
     Indication: Product used for unknown indication
  1270. DIATRIZOATE MEGLUMINE [Concomitant]
     Active Substance: DIATRIZOATE MEGLUMINE
     Indication: Product used for unknown indication
     Route: 040
  1271. METFORMIN [Concomitant]
     Active Substance: METFORMIN HYDROCHLORIDE
     Indication: Product used for unknown indication
     Route: 040
  1272. METHYLPREDNISOLONE SODIUM SUCCINATE [Concomitant]
     Active Substance: METHYLPREDNISOLONE SODIUM SUCCINATE
     Indication: Product used for unknown indication
     Route: 040
  1273. TRUXIMA [Concomitant]
     Active Substance: RITUXIMAB-ABBS
     Indication: Rheumatoid arthritis
  1274. TRUXIMA [Concomitant]
     Active Substance: RITUXIMAB-ABBS
     Route: 040
  1275. TRUXIMA [Concomitant]
     Active Substance: RITUXIMAB-ABBS
     Route: 040
  1276. TRUXIMA [Concomitant]
     Active Substance: RITUXIMAB-ABBS
  1277. TRUXIMA [Concomitant]
     Active Substance: RITUXIMAB-ABBS
  1278. TRUXIMA [Concomitant]
     Active Substance: RITUXIMAB-ABBS
     Route: 058
  1279. TRUXIMA [Concomitant]
     Active Substance: RITUXIMAB-ABBS
     Route: 043
  1280. TRIAMCINOLONE ACETONIDE [Concomitant]
     Active Substance: TRIAMCINOLONE ACETONIDE
     Indication: Rheumatoid arthritis
  1281. CALTRATE WITH VITAMIN D [Concomitant]
     Active Substance: CALCIUM CARBONATE\CHOLECALCIFEROL
     Indication: Rheumatoid arthritis
  1282. CALCIUM\VITAMIN D [Concomitant]
     Active Substance: CALCIUM\VITAMIN D
     Indication: Product used for unknown indication
  1283. DIETARY SUPPLEMENT\HERBALS [Concomitant]
     Active Substance: DIETARY SUPPLEMENT\HERBALS
     Indication: Product used for unknown indication
  1284. HYALURONIDASE (HUMAN RECOMBINANT)\RITUXIMAB [Concomitant]
     Active Substance: HYALURONIDASE (HUMAN RECOMBINANT)\RITUXIMAB
     Indication: Rheumatoid arthritis
     Dosage: UNK
  1285. ACETAMINOPHEN AND CODEINE [Concomitant]
     Active Substance: ACETAMINOPHEN\CODEINE PHOSPHATE
     Indication: Rheumatoid arthritis
  1286. ANAKINRA [Concomitant]
     Active Substance: ANAKINRA
     Indication: Rheumatoid arthritis
  1287. ANAKINRA [Concomitant]
     Active Substance: ANAKINRA
  1288. CHOLECALCIFEROL [Concomitant]
     Active Substance: CHOLECALCIFEROL
     Indication: Rheumatoid arthritis
     Route: 048
  1289. RISEDRONIC ACID [Concomitant]
     Active Substance: RISEDRONIC ACID
     Indication: Product used for unknown indication
  1290. ALENDRONATE SODIUM [Concomitant]
     Active Substance: ALENDRONATE SODIUM
     Indication: Rheumatoid arthritis
     Route: 048
  1291. ALENDRONATE SODIUM [Concomitant]
     Active Substance: ALENDRONATE SODIUM
     Route: 048
  1292. CELECOXIB [Concomitant]
     Active Substance: CELECOXIB
     Indication: Rheumatoid arthritis
     Route: 048
  1293. DICLOFENAC EPOLAMINE [Concomitant]
     Active Substance: DICLOFENAC EPOLAMINE
     Indication: Foetal exposure during pregnancy
  1294. GRAMICIDIN\POLYMYXIN B [Concomitant]
     Active Substance: GRAMICIDIN\POLYMYXIN B
     Indication: Product used for unknown indication
  1295. ZINC [Concomitant]
     Active Substance: ZINC
     Indication: Foetal exposure during pregnancy
  1296. PSEUDOEPHEDRINE HYDROCHLORIDE [Concomitant]
     Active Substance: PSEUDOEPHEDRINE HYDROCHLORIDE
     Indication: Rheumatoid arthritis
  1297. PSEUDOEPHEDRINE HYDROCHLORIDE [Concomitant]
     Active Substance: PSEUDOEPHEDRINE HYDROCHLORIDE
  1298. PSEUDOEPHEDRINE HYDROCHLORIDE [Concomitant]
     Active Substance: PSEUDOEPHEDRINE HYDROCHLORIDE
  1299. PSEUDOEPHEDRINE HYDROCHLORIDE [Concomitant]
     Active Substance: PSEUDOEPHEDRINE HYDROCHLORIDE
  1300. VENTOLIN [Concomitant]
     Active Substance: ALBUTEROL SULFATE
     Indication: Product used for unknown indication
  1301. FLUMETHASONE\SALICYLIC ACID [Concomitant]
     Active Substance: FLUMETHASONE\SALICYLIC ACID
     Indication: Product used for unknown indication
  1302. TOPIRAMATE [Concomitant]
     Active Substance: TOPIRAMATE
     Indication: Product used for unknown indication
  1303. TOPIRAMATE [Concomitant]
     Active Substance: TOPIRAMATE

REACTIONS (199)
  - Adverse event [Not Recovered/Not Resolved]
  - Coeliac disease [Unknown]
  - Rheumatoid arthritis [Not Recovered/Not Resolved]
  - Pneumonia [Not Recovered/Not Resolved]
  - Arthropathy [Not Recovered/Not Resolved]
  - Drug-induced liver injury [Unknown]
  - Hepatitis [Not Recovered/Not Resolved]
  - Pemphigus [Not Recovered/Not Resolved]
  - Pericarditis [Not Recovered/Not Resolved]
  - Psoriatic arthropathy [Not Recovered/Not Resolved]
  - Rheumatic fever [Not Recovered/Not Resolved]
  - Systemic lupus erythematosus [Not Recovered/Not Resolved]
  - Type 2 diabetes mellitus [Not Recovered/Not Resolved]
  - Hospitalisation [Not Recovered/Not Resolved]
  - Breast cancer stage III [Unknown]
  - Duodenal ulcer perforation [Not Recovered/Not Resolved]
  - Epilepsy [Unknown]
  - Liver injury [Unknown]
  - Lower respiratory tract infection [Not Recovered/Not Resolved]
  - Lupus vulgaris [Not Recovered/Not Resolved]
  - Autoimmune disorder [Not Recovered/Not Resolved]
  - Deep vein thrombosis postoperative [Unknown]
  - Lower limb fracture [Unknown]
  - Lupus-like syndrome [Unknown]
  - Pancreatitis [Unknown]
  - Pulmonary fibrosis [Unknown]
  - Rectal haemorrhage [Unknown]
  - Retinitis [Unknown]
  - Colitis ulcerative [Unknown]
  - Crohn^s disease [Unknown]
  - Delirium [Unknown]
  - Dislocation of vertebra [Unknown]
  - Hepatic cirrhosis [Unknown]
  - Breast cancer stage II [Unknown]
  - Leukopenia [Unknown]
  - Arthralgia [Not Recovered/Not Resolved]
  - Abdominal discomfort [Not Recovered/Not Resolved]
  - Drug ineffective [Not Recovered/Not Resolved]
  - Fatigue [Not Recovered/Not Resolved]
  - Grip strength decreased [Unknown]
  - Headache [Not Recovered/Not Resolved]
  - Hepatic enzyme increased [Not Recovered/Not Resolved]
  - Injection site reaction [Recovering/Resolving]
  - Joint swelling [Not Recovered/Not Resolved]
  - Loss of personal independence in daily activities [Not Recovered/Not Resolved]
  - Musculoskeletal stiffness [Not Recovered/Not Resolved]
  - Nail disorder [Unknown]
  - Onychomycosis [Not Recovered/Not Resolved]
  - Treatment failure [Not Recovered/Not Resolved]
  - Peripheral swelling [Not Recovered/Not Resolved]
  - Rash [Not Recovered/Not Resolved]
  - Abdominal distension [Unknown]
  - Alopecia [Not Recovered/Not Resolved]
  - Anti-cyclic citrullinated peptide antibody positive [Not Recovered/Not Resolved]
  - Back injury [Not Recovered/Not Resolved]
  - Blood cholesterol increased [Not Recovered/Not Resolved]
  - C-reactive protein abnormal [Not Recovered/Not Resolved]
  - C-reactive protein increased [Not Recovered/Not Resolved]
  - Condition aggravated [Not Recovered/Not Resolved]
  - Confusional state [Not Recovered/Not Resolved]
  - Drug hypersensitivity [Not Recovered/Not Resolved]
  - Drug intolerance [Not Recovered/Not Resolved]
  - Dyspepsia [Unknown]
  - Fall [Not Recovered/Not Resolved]
  - Finger deformity [Not Recovered/Not Resolved]
  - Gait inability [Not Recovered/Not Resolved]
  - Gastrointestinal disorder [Not Recovered/Not Resolved]
  - General physical health deterioration [Not Recovered/Not Resolved]
  - Glossodynia [Not Recovered/Not Resolved]
  - Hand deformity [Not Recovered/Not Resolved]
  - Hypersensitivity [Not Recovered/Not Resolved]
  - Hypertension [Not Recovered/Not Resolved]
  - Inflammation [Not Recovered/Not Resolved]
  - Infusion related reaction [Not Recovered/Not Resolved]
  - Insomnia [Not Recovered/Not Resolved]
  - Injury [Not Recovered/Not Resolved]
  - Liver function test increased [Not Recovered/Not Resolved]
  - Malaise [Unknown]
  - Mobility decreased [Not Recovered/Not Resolved]
  - Muscular weakness [Not Recovered/Not Resolved]
  - Nausea [Not Recovered/Not Resolved]
  - Neck pain [Not Recovered/Not Resolved]
  - Onychomadesis [Not Recovered/Not Resolved]
  - Pain [Not Recovered/Not Resolved]
  - Pain in extremity [Not Recovered/Not Resolved]
  - Product use issue [Not Recovered/Not Resolved]
  - Sleep disorder [Not Recovered/Not Resolved]
  - Swelling [Not Recovered/Not Resolved]
  - Synovitis [Not Recovered/Not Resolved]
  - Therapeutic product effect decreased [Not Recovered/Not Resolved]
  - Therapeutic product effect incomplete [Not Recovered/Not Resolved]
  - Vomiting [Not Recovered/Not Resolved]
  - Wound [Not Recovered/Not Resolved]
  - Abdominal pain upper [Not Recovered/Not Resolved]
  - Asthenia [Not Recovered/Not Resolved]
  - Blepharospasm [Unknown]
  - Blister [Not Recovered/Not Resolved]
  - Bursitis [Unknown]
  - Diarrhoea [Not Recovered/Not Resolved]
  - Depression [Unknown]
  - Dry mouth [Unknown]
  - Dizziness [Not Recovered/Not Resolved]
  - Facet joint syndrome [Unknown]
  - Fibromyalgia [Unknown]
  - Folliculitis [Not Recovered/Not Resolved]
  - Gastrooesophageal reflux disease [Unknown]
  - Helicobacter infection [Not Recovered/Not Resolved]
  - Hypercholesterolaemia [Unknown]
  - Hypoaesthesia [Unknown]
  - Impaired healing [Not Recovered/Not Resolved]
  - Irritable bowel syndrome [Not Recovered/Not Resolved]
  - Joint range of motion decreased [Unknown]
  - Lip dry [Unknown]
  - Lung disorder [Unknown]
  - Memory impairment [Unknown]
  - Migraine [Unknown]
  - Muscle injury [Not Recovered/Not Resolved]
  - Muscle spasms [Unknown]
  - Musculoskeletal pain [Unknown]
  - Nasopharyngitis [Not Recovered/Not Resolved]
  - Night sweats [Unknown]
  - Obesity [Unknown]
  - Osteoarthritis [Unknown]
  - Paraesthesia [Unknown]
  - Product label confusion [Unknown]
  - Product quality issue [Unknown]
  - Stomatitis [Not Recovered/Not Resolved]
  - Taste disorder [Unknown]
  - Urticaria [Not Recovered/Not Resolved]
  - Weight increased [Not Recovered/Not Resolved]
  - Wheezing [Not Recovered/Not Resolved]
  - Wound infection [Not Recovered/Not Resolved]
  - Contusion [Not Recovered/Not Resolved]
  - Ill-defined disorder [Not Recovered/Not Resolved]
  - Off label use [Unknown]
  - Peripheral venous disease [Unknown]
  - Dyspnoea [Not Recovered/Not Resolved]
  - Abdominal pain [Not Recovered/Not Resolved]
  - Discomfort [Not Recovered/Not Resolved]
  - Pruritus [Not Recovered/Not Resolved]
  - Pyrexia [Not Recovered/Not Resolved]
  - Sinusitis [Not Recovered/Not Resolved]
  - Infection [Not Recovered/Not Resolved]
  - Decreased appetite [Not Recovered/Not Resolved]
  - Liver disorder [Not Recovered/Not Resolved]
  - Sciatica [Not Recovered/Not Resolved]
  - Ulcer haemorrhage [Not Recovered/Not Resolved]
  - Therapy non-responder [Not Recovered/Not Resolved]
  - Therapeutic response decreased [Not Recovered/Not Resolved]
  - Adjustment disorder with depressed mood [Not Recovered/Not Resolved]
  - Asthma [Not Recovered/Not Resolved]
  - Amnesia [Not Recovered/Not Resolved]
  - Anxiety [Not Recovered/Not Resolved]
  - Infusion site reaction [Unknown]
  - Red blood cell sedimentation rate abnormal [Unknown]
  - Rheumatoid factor positive [Not Recovered/Not Resolved]
  - Adverse reaction [Unknown]
  - Chest pain [Unknown]
  - Oedema [Not Recovered/Not Resolved]
  - Road traffic accident [Unknown]
  - Sleep disorder due to general medical condition, insomnia type [Unknown]
  - Swollen joint count increased [Not Recovered/Not Resolved]
  - Oedema peripheral [Unknown]
  - Osteoporosis [Unknown]
  - Acquired porphyria [Unknown]
  - Red blood cell sedimentation rate increased [Unknown]
  - Respiratory disorder [Unknown]
  - Sleep disorder due to a general medical condition [Unknown]
  - Visual impairment [Unknown]
  - Weight decreased [Unknown]
  - White blood cell count increased [Unknown]
  - X-ray abnormal [Unknown]
  - Bone erosion [Unknown]
  - Drug tolerance decreased [Unknown]
  - Ear infection [Unknown]
  - Exostosis [Unknown]
  - Feeling hot [Unknown]
  - Foot deformity [Unknown]
  - Frequent bowel movements [Unknown]
  - Gait disturbance [Unknown]
  - Joint dislocation [Unknown]
  - Joint stiffness [Unknown]
  - Laboratory test abnormal [Unknown]
  - Laryngitis [Unknown]
  - Arthritis [Unknown]
  - Psoriasis [Unknown]
  - Pustular psoriasis [Unknown]
  - Subcutaneous drug absorption impaired [Unknown]
  - Eye injury [Not Recovered/Not Resolved]
  - Hypocholesterolaemia [Unknown]
  - Adverse drug reaction [Unknown]
  - Back disorder [Unknown]
  - Fluid retention [Unknown]
  - General symptom [Unknown]
  - Myositis [Unknown]
  - Rash vesicular [Unknown]
  - Ear pain [Unknown]
  - Overlap syndrome [Unknown]
  - Hypertransaminasaemia [Unknown]
